FAERS Safety Report 24434064 (Version 9)
Quarter: 2025Q3

REPORT INFORMATION
  Report Type: Spontaneous
  Country: CA (occurrence: CA)
  Receive Date: 20241014
  Receipt Date: 20250926
  Transmission Date: 20251020
  Serious: Yes (Other)
  Sender: MYLAN
  Company Number: CA-MYLANLABS-2024M1082654

PATIENT
  Age: 53 Year
  Sex: Male

DRUGS (1068)
  1. LEVOTHYROXINE [Suspect]
     Active Substance: LEVOTHYROXINE
     Indication: Product used for unknown indication
  2. LEVOTHYROXINE [Suspect]
     Active Substance: LEVOTHYROXINE
     Dosage: 100 MILLIGRAM, QD (1 DOSE PER DAY)
  3. EPINEPHRINE [Suspect]
     Active Substance: EPINEPHRINE
     Indication: Product used for unknown indication
  4. GABAPENTIN [Suspect]
     Active Substance: GABAPENTIN
     Indication: Product used for unknown indication
  5. GABAPENTIN [Suspect]
     Active Substance: GABAPENTIN
     Dosage: 900 MILLIGRAM, QD (300 MILLIGRAM, 3 DOSE PER 1 D)
  6. GABAPENTIN [Suspect]
     Active Substance: GABAPENTIN
     Indication: Product used for unknown indication
  7. GABAPENTIN [Suspect]
     Active Substance: GABAPENTIN
     Dosage: 900 MILLIGRAM, QD (1 EVERY 1 DAY)
  8. GABAPENTIN [Suspect]
     Active Substance: GABAPENTIN
  9. SYNTHROID [Suspect]
     Active Substance: LEVOTHYROXINE SODIUM
     Indication: Product used for unknown indication
  10. ESCITALOPRAM [Suspect]
     Active Substance: ESCITALOPRAM OXALATE
     Indication: Product used for unknown indication
  11. ESCITALOPRAM [Suspect]
     Active Substance: ESCITALOPRAM OXALATE
     Dosage: 10 MILLIGRAM, QD
  12. METFORMIN [Suspect]
     Active Substance: METFORMIN HYDROCHLORIDE
     Indication: Product used for unknown indication
  13. METFORMIN [Suspect]
     Active Substance: METFORMIN HYDROCHLORIDE
     Dosage: 1000 MILLIGRAM, QD (500 MILLIGRAM, 2 DOSE PER 1 D)
  14. METFORMIN [Suspect]
     Active Substance: METFORMIN HYDROCHLORIDE
     Dosage: 500 MILLIGRAM, BID (1 EVERY 12 HOURS)
  15. BUDESONIDE [Suspect]
     Active Substance: BUDESONIDE
     Indication: Colitis ulcerative
  16. BUDESONIDE [Suspect]
     Active Substance: BUDESONIDE
  17. BUDESONIDE [Suspect]
     Active Substance: BUDESONIDE
     Dosage: 8 DOSAGE FORM, Q8WEEKS (1 EVERY 8 WEEKS)
     Dates: start: 200707
  18. BUDESONIDE [Suspect]
     Active Substance: BUDESONIDE
     Dosage: 1 DOSAGE FORM, QD
     Dates: start: 201707
  19. BUDESONIDE [Suspect]
     Active Substance: BUDESONIDE
     Dosage: 1 DOSAGE FORM, BIMONTHLY (1 EVERY 8 WEEKS)
  20. BUDESONIDE [Suspect]
     Active Substance: BUDESONIDE
     Dosage: 8 DOSAGE FORM, QD (1 EVERY 1 DAY)
     Dates: start: 201707
  21. BUDESONIDE [Suspect]
     Active Substance: BUDESONIDE
     Dosage: 1 DOSAGE FORM, QD (1 EVERY 1 DAYS)
  22. BUDESONIDE [Suspect]
     Active Substance: BUDESONIDE
     Dosage: 8 DOSAGE FORM, QD (1 EVERY 1 DAYS)
  23. BUDESONIDE [Suspect]
     Active Substance: BUDESONIDE
     Dosage: UNK, QD (1 EVERY 1 DAYS)
  24. BUDESONIDE [Suspect]
     Active Substance: BUDESONIDE
  25. BUDESONIDE [Suspect]
     Active Substance: BUDESONIDE
  26. BUDESONIDE [Suspect]
     Active Substance: BUDESONIDE
  27. BUDESONIDE [Suspect]
     Active Substance: BUDESONIDE
     Dosage: UNK, QID
  28. BUDESONIDE [Suspect]
     Active Substance: BUDESONIDE
  29. BUDESONIDE [Suspect]
     Active Substance: BUDESONIDE
  30. BUDESONIDE [Suspect]
     Active Substance: BUDESONIDE
  31. BUDESONIDE [Suspect]
     Active Substance: BUDESONIDE
     Dosage: UNK, QID
  32. BUDESONIDE [Suspect]
     Active Substance: BUDESONIDE
  33. BUDESONIDE [Suspect]
     Active Substance: BUDESONIDE
  34. BUDESONIDE [Suspect]
     Active Substance: BUDESONIDE
     Dosage: 4 DOSAGE FORM, QD (1 DOSAGE FORM, QD)
     Dates: start: 201707
  35. BUDESONIDE [Suspect]
     Active Substance: BUDESONIDE
  36. BUDESONIDE [Suspect]
     Active Substance: BUDESONIDE
  37. BUDESONIDE [Suspect]
     Active Substance: BUDESONIDE
  38. BUDESONIDE [Suspect]
     Active Substance: BUDESONIDE
     Dosage: 245 DOSAGE FORM, QD (1 EVERY 1 DAY)
  39. BUDESONIDE [Suspect]
     Active Substance: BUDESONIDE
     Indication: Colitis ulcerative
  40. BUDESONIDE [Suspect]
     Active Substance: BUDESONIDE
     Dosage: 1 DOSAGE FORM, QD
     Dates: start: 201707
  41. BUDESONIDE [Suspect]
     Active Substance: BUDESONIDE
  42. BUDESONIDE [Suspect]
     Active Substance: BUDESONIDE
     Dosage: 8 DOSAGE FORM, QD
     Dates: start: 201707
  43. BUDESONIDE [Suspect]
     Active Substance: BUDESONIDE
  44. BUDESONIDE [Suspect]
     Active Substance: BUDESONIDE
     Dosage: 245 DOSAGE FORM, QD
  45. BUDESONIDE [Suspect]
     Active Substance: BUDESONIDE
     Dosage: 212 DOSAGE FORM, QD
  46. BUDESONIDE [Suspect]
     Active Substance: BUDESONIDE
     Dosage: 4 DOSAGE FORM, QD
     Dates: start: 201707
  47. BUDESONIDE [Suspect]
     Active Substance: BUDESONIDE
  48. MESALAMINE [Suspect]
     Active Substance: MESALAMINE
     Indication: Colitis ulcerative
     Dosage: 4.8 GRAM, QD (0.8 G, 3 TABLETS TWO TIMES A DAY (4.8 G DAILY,  01-OCT-2016)
  49. MESALAMINE [Suspect]
     Active Substance: MESALAMINE
     Dosage: 3 DOSAGE FORM, BID (Q12H)
     Dates: start: 20161001
  50. MESALAMINE [Suspect]
     Active Substance: MESALAMINE
     Dosage: 2.4 GRAM, QD (1 EVERY 1 DAYS)
     Dates: start: 20161001
  51. MESALAMINE [Suspect]
     Active Substance: MESALAMINE
     Dosage: 3 GRAM, QD (1 EVERY 1 DAYS)
     Dates: start: 20161001
  52. MESALAMINE [Suspect]
     Active Substance: MESALAMINE
     Dosage: 3 DOSAGE FORM, BID
     Dates: start: 201610
  53. MESALAMINE [Suspect]
     Active Substance: MESALAMINE
     Dosage: 6 DOSAGE FORM, QD
     Dates: start: 20161001
  54. MESALAMINE [Suspect]
     Active Substance: MESALAMINE
     Dosage: 3 GRAM, BID
     Dates: start: 20161001
  55. MESALAMINE [Suspect]
     Active Substance: MESALAMINE
     Dosage: 6 DOSAGE FORM, BID
     Dates: start: 201610
  56. MESALAMINE [Suspect]
     Active Substance: MESALAMINE
     Dosage: 6 DOSAGE FORM, QD (3 DOSAGE FORM, BID)
     Dates: start: 20161001
  57. MESALAMINE [Suspect]
     Active Substance: MESALAMINE
     Dates: start: 20170101, end: 20170901
  58. MESALAMINE [Suspect]
     Active Substance: MESALAMINE
     Dosage: 3 DOSAGE FORM, BID,3 DOSAGE FORM, Q12H
     Dates: start: 20161001
  59. MESALAMINE [Suspect]
     Active Substance: MESALAMINE
  60. MESALAMINE [Suspect]
     Active Substance: MESALAMINE
  61. MESALAMINE [Suspect]
     Active Substance: MESALAMINE
     Dosage: 4.8 GRAM, QD
     Dates: start: 20161001
  62. MESALAMINE [Suspect]
     Active Substance: MESALAMINE
  63. MESALAMINE [Suspect]
     Active Substance: MESALAMINE
     Indication: Colitis ulcerative
     Dosage: 3 DOSAGE FORM, BID (0.8 G, 3 TABLETS TWO TIMES A DAY (4.8 G DAILY)
     Dates: start: 201610
  64. MESALAMINE [Suspect]
     Active Substance: MESALAMINE
     Dosage: 8 DOSAGE FORM, QD
     Dates: start: 201707
  65. MESALAMINE [Suspect]
     Active Substance: MESALAMINE
     Dosage: 3 GRAM, QD
     Dates: start: 20161001
  66. MESALAMINE [Suspect]
     Active Substance: MESALAMINE
     Dosage: 4.8 GRAM, QD
     Dates: start: 20161001
  67. MESALAMINE [Suspect]
     Active Substance: MESALAMINE
     Dosage: 6 DOSAGE FORM, BID (2 EVERY 1 DAYS)
     Dates: start: 20161001
  68. MESALAMINE [Suspect]
     Active Substance: MESALAMINE
     Dosage: 6 DOSAGE FORM, QD
     Dates: start: 20161001
  69. MESALAMINE [Suspect]
     Active Substance: MESALAMINE
     Dosage: 2.4 GRAM, QD
     Dates: start: 20161001
  70. MESALAMINE [Suspect]
     Active Substance: MESALAMINE
     Dosage: 3 DOSAGE FORM, BID
     Dates: start: 201610
  71. MESALAMINE [Suspect]
     Active Substance: MESALAMINE
     Dosage: 2.4 GRAM, QD (1 DOSAGE FORM)
     Dates: start: 201707
  72. MESALAMINE [Suspect]
     Active Substance: MESALAMINE
     Indication: Product used for unknown indication
     Dosage: 6 DOSAGE FORM, QD
     Dates: start: 201610
  73. BUDESONIDE [Suspect]
     Active Substance: BUDESONIDE
     Indication: Colitis ulcerative
  74. BUDESONIDE [Suspect]
     Active Substance: BUDESONIDE
  75. BUDESONIDE [Suspect]
     Active Substance: BUDESONIDE
     Dosage: 1 DOSAGE FORM, QD
     Dates: start: 20170701
  76. BUDESONIDE [Suspect]
     Active Substance: BUDESONIDE
  77. BUDESONIDE [Suspect]
     Active Substance: BUDESONIDE
     Dosage: 1 DOSAGE FORM, QD
     Dates: start: 201707
  78. BUDESONIDE [Suspect]
     Active Substance: BUDESONIDE
  79. BUDESONIDE [Suspect]
     Active Substance: BUDESONIDE
  80. BUDESONIDE [Suspect]
     Active Substance: BUDESONIDE
  81. BUDESONIDE [Suspect]
     Active Substance: BUDESONIDE
  82. MESALAMINE [Suspect]
     Active Substance: MESALAMINE
     Indication: Colitis ulcerative
     Dates: start: 20160101, end: 201610
  83. MESALAMINE [Suspect]
     Active Substance: MESALAMINE
  84. MESALAMINE [Suspect]
     Active Substance: MESALAMINE
  85. MESALAMINE [Suspect]
     Active Substance: MESALAMINE
     Dates: start: 20160101, end: 20161001
  86. MESALAMINE [Suspect]
     Active Substance: MESALAMINE
     Dosage: 6 DOSAGE FORM, QD
     Dates: start: 201610
  87. MESALAMINE [Suspect]
     Active Substance: MESALAMINE
     Dosage: 6 DOSAGE FORM, QD
     Dates: start: 20161001
  88. MESALAMINE [Suspect]
     Active Substance: MESALAMINE
  89. MESALAMINE [Suspect]
     Active Substance: MESALAMINE
  90. MESALAMINE [Suspect]
     Active Substance: MESALAMINE
  91. MESALAMINE [Suspect]
     Active Substance: MESALAMINE
     Dosage: 4.8 GRAM, QD
     Dates: start: 20170101
  92. MESALAMINE [Suspect]
     Active Substance: MESALAMINE
     Dates: start: 20170101, end: 20170901
  93. MESALAMINE [Suspect]
     Active Substance: MESALAMINE
     Dosage: 2.4 GRAM, QD
     Dates: start: 20161001
  94. MESALAMINE [Suspect]
     Active Substance: MESALAMINE
  95. MESALAMINE [Suspect]
     Active Substance: MESALAMINE
     Dosage: 4.8 GRAM, QD
     Dates: start: 20161001
  96. MESALAMINE [Suspect]
     Active Substance: MESALAMINE
     Dates: start: 20170101, end: 20170901
  97. MESALAMINE [Suspect]
     Active Substance: MESALAMINE
  98. MESALAMINE [Suspect]
     Active Substance: MESALAMINE
     Dates: start: 201601, end: 201610
  99. MESALAMINE [Suspect]
     Active Substance: MESALAMINE
  100. MESALAMINE [Suspect]
     Active Substance: MESALAMINE
  101. MESALAMINE [Suspect]
     Active Substance: MESALAMINE
     Dates: start: 20160101, end: 201610
  102. MESALAMINE [Suspect]
     Active Substance: MESALAMINE
     Dates: start: 20160101, end: 20161001
  103. MESALAMINE [Suspect]
     Active Substance: MESALAMINE
  104. MESALAMINE [Suspect]
     Active Substance: MESALAMINE
     Dosage: 1 DOSAGE FORM, QD (1 DOSE PER 1 DAY)
  105. MESALAMINE [Suspect]
     Active Substance: MESALAMINE
     Dosage: 3 GRAM, QD (1 DOSE PER DAY)
  106. MESALAMINE [Suspect]
     Active Substance: MESALAMINE
  107. MESALAMINE [Suspect]
     Active Substance: MESALAMINE
  108. MESALAMINE [Suspect]
     Active Substance: MESALAMINE
  109. MESALAMINE [Suspect]
     Active Substance: MESALAMINE
  110. MESALAMINE [Suspect]
     Active Substance: MESALAMINE
     Dosage: 6 DOSAGE FORM, QD (1 DOSE PER 1 DAY)
  111. MESALAMINE [Suspect]
     Active Substance: MESALAMINE
     Dosage: 1 DOSAGE FORM, QD (1 DOSE PER 1 DAY)
  112. MESALAMINE [Suspect]
     Active Substance: MESALAMINE
  113. MESALAMINE [Suspect]
     Active Substance: MESALAMINE
     Indication: Colitis ulcerative
  114. MESALAMINE [Suspect]
     Active Substance: MESALAMINE
  115. MESALAMINE [Suspect]
     Active Substance: MESALAMINE
     Indication: Colitis ulcerative
  116. MESALAMINE [Suspect]
     Active Substance: MESALAMINE
     Dates: start: 20160101, end: 20161001
  117. MESALAMINE [Suspect]
     Active Substance: MESALAMINE
     Dates: start: 20170101, end: 20170901
  118. MESALAMINE [Suspect]
     Active Substance: MESALAMINE
     Dates: start: 20160101, end: 20161001
  119. MESALAMINE [Suspect]
     Active Substance: MESALAMINE
     Dates: start: 20170101, end: 20170901
  120. MESALAMINE [Suspect]
     Active Substance: MESALAMINE
  121. MESALAMINE [Suspect]
     Active Substance: MESALAMINE
     Dosage: 4.8 MILLIGRAM, QD (1 EVERY 1 DAY)
     Dates: start: 20170101
  122. MESALAMINE [Suspect]
     Active Substance: MESALAMINE
     Dosage: 3 DOSAGE FORM, BID
     Dates: start: 201610
  123. MESALAMINE [Suspect]
     Active Substance: MESALAMINE
  124. MESALAMINE [Suspect]
     Active Substance: MESALAMINE
     Dosage: 6 DOSAGE FORM, QD (1 EVERY 1 DAY)
     Dates: start: 20161001
  125. MESALAMINE [Suspect]
     Active Substance: MESALAMINE
  126. MESALAMINE [Suspect]
     Active Substance: MESALAMINE
     Dosage: 2.4 GRAM, QD (1 EVERY 1 DAY)
     Dates: start: 20161001
  127. MESALAMINE [Suspect]
     Active Substance: MESALAMINE
     Dosage: 4.8 MILLIGRAM, QD (1 EVERY 1 DAY)
  128. MESALAMINE [Suspect]
     Active Substance: MESALAMINE
  129. MESALAMINE [Suspect]
     Active Substance: MESALAMINE
  130. MESALAMINE [Suspect]
     Active Substance: MESALAMINE
  131. MESALAMINE [Suspect]
     Active Substance: MESALAMINE
     Dosage: 6 DOSAGE FORM, QD(3 DOSAGE FORM, BID )
     Dates: start: 201610
  132. MESALAMINE [Suspect]
     Active Substance: MESALAMINE
     Dosage: 2.4 GRAM, QD (0.8 G, 3 TABLETS TWO TIMES A DAY (4.8 G DAILY))
     Dates: start: 20161001
  133. MESALAMINE [Suspect]
     Active Substance: MESALAMINE
  134. MESALAMINE [Suspect]
     Active Substance: MESALAMINE
  135. MESALAMINE [Suspect]
     Active Substance: MESALAMINE
     Dosage: 3 DOSAGE FORM, BID
     Dates: start: 201601
  136. MESALAMINE [Suspect]
     Active Substance: MESALAMINE
     Dates: start: 20170101, end: 20171001
  137. MESALAMINE [Suspect]
     Active Substance: MESALAMINE
     Dates: start: 2017, end: 201709
  138. MESALAMINE [Suspect]
     Active Substance: MESALAMINE
     Dosage: 6 DOSAGE FORM, QD (1 EVERY 1 DAY)
     Dates: start: 20161001
  139. MESALAMINE [Suspect]
     Active Substance: MESALAMINE
  140. MESALAMINE [Suspect]
     Active Substance: MESALAMINE
     Dosage: 3 GRAM, QD (1 EVERY 1 DAY)
     Dates: start: 20160110
  141. MESALAMINE [Suspect]
     Active Substance: MESALAMINE
     Dates: start: 20170101, end: 20171001
  142. MESALAMINE [Suspect]
     Active Substance: MESALAMINE
     Dosage: 4.8 GRAM, QD
     Dates: start: 20161001
  143. MESALAMINE [Suspect]
     Active Substance: MESALAMINE
     Dosage: 6 DOSAGE FORM, QD (3 DOSAGE FORM, BID)
     Dates: start: 2016
  144. MESALAMINE [Suspect]
     Active Substance: MESALAMINE
  145. MESALAMINE [Suspect]
     Active Substance: MESALAMINE
     Dosage: 4.8 GRAM, QD
     Dates: start: 20161001
  146. MESALAMINE [Suspect]
     Active Substance: MESALAMINE
  147. MESALAMINE [Suspect]
     Active Substance: MESALAMINE
     Dosage: 1 DOSAGE FORM, QD (1 EVERY 1 DAY)
     Dates: start: 201707
  148. MESALAMINE [Suspect]
     Active Substance: MESALAMINE
  149. MESALAMINE [Suspect]
     Active Substance: MESALAMINE
     Dosage: 3 DOSAGE FORM, Q5D (1 EVERY 5 DAYS)
  150. MESALAMINE [Suspect]
     Active Substance: MESALAMINE
  151. MESALAMINE [Suspect]
     Active Substance: MESALAMINE
     Dosage: 1 DOSAGE FORM, QD (1 EVERY 1 DAY)
     Dates: start: 201707
  152. MESALAMINE [Suspect]
     Active Substance: MESALAMINE
  153. MESALAMINE [Suspect]
     Active Substance: MESALAMINE
     Dosage: UNK, QD (1 EVERY 1 DAY)
  154. MESALAMINE [Suspect]
     Active Substance: MESALAMINE
  155. MESALAMINE [Suspect]
     Active Substance: MESALAMINE
     Dosage: 1 DOSAGE FORM, QD (1 EVERY 1 DAY)
  156. MESALAMINE [Suspect]
     Active Substance: MESALAMINE
     Dosage: 12 DOSAGE FORM, QD (1 EVERY 1 DAY)
  157. MESALAMINE [Suspect]
     Active Substance: MESALAMINE
     Dates: start: 20170901, end: 2019
  158. MESALAMINE [Suspect]
     Active Substance: MESALAMINE
     Dosage: 4.8 DOSAGE FORM, QD (1 EVERY 1 DAY)
  159. MESALAMINE [Suspect]
     Active Substance: MESALAMINE
     Dosage: 6 GRAM, QD (1 EVERY 1 DAY)
  160. MESALAMINE [Suspect]
     Active Substance: MESALAMINE
     Dosage: 2.4 GRAM, QD (1 EVERY 1 DAY)
  161. MESALAMINE [Suspect]
     Active Substance: MESALAMINE
     Dosage: 2.4 GRAM, QD (1 EVERY 1 DAY)
  162. MESALAMINE [Suspect]
     Active Substance: MESALAMINE
  163. MESALAMINE [Suspect]
     Active Substance: MESALAMINE
  164. MESALAMINE [Suspect]
     Active Substance: MESALAMINE
     Indication: Colitis ulcerative
  165. MESALAMINE [Suspect]
     Active Substance: MESALAMINE
  166. MESALAMINE [Suspect]
     Active Substance: MESALAMINE
     Dates: start: 20160101, end: 20161001
  167. MESALAMINE [Suspect]
     Active Substance: MESALAMINE
  168. MESALAMINE [Suspect]
     Active Substance: MESALAMINE
     Dates: start: 201601, end: 201610
  169. MESALAMINE [Suspect]
     Active Substance: MESALAMINE
     Indication: Colitis ulcerative
     Dates: start: 20160101, end: 20160101
  170. MESALAMINE [Suspect]
     Active Substance: MESALAMINE
  171. MESALAMINE [Suspect]
     Active Substance: MESALAMINE
  172. MESALAMINE [Suspect]
     Active Substance: MESALAMINE
  173. MESALAMINE [Suspect]
     Active Substance: MESALAMINE
  174. MESALAMINE [Suspect]
     Active Substance: MESALAMINE
     Dosage: 50 MILLIGRAM, QD (1 DOSE PER 1 DAY)
  175. MESALAMINE [Suspect]
     Active Substance: MESALAMINE
     Dosage: 6 DOSAGE FORM, QD (3 DOSAGE FORM, 2 DOSE PER 1 DAY)
  176. MESALAMINE [Suspect]
     Active Substance: MESALAMINE
     Dosage: 24 DOSAGE FORM, QD (1 DOSE PER 1 DAY)
  177. MESALAMINE [Suspect]
     Active Substance: MESALAMINE
  178. MESALAMINE [Suspect]
     Active Substance: MESALAMINE
     Dosage: 40 MILLIGRAM, QD ( 1 DOSE PER 1 DAY)
  179. MESALAMINE [Suspect]
     Active Substance: MESALAMINE
     Dosage: 12 DOSAGE FORM, QD (1 DOSE PER 1 DAY)
  180. MESALAMINE [Suspect]
     Active Substance: MESALAMINE
  181. MESALAMINE [Suspect]
     Active Substance: MESALAMINE
     Dosage: 4.8 GRAM, QD (1 DOSE PER 1 DAY)
  182. MESALAMINE [Suspect]
     Active Substance: MESALAMINE
     Dosage: 60 DOSAGE FORM, QD (30 DOSAGE FORM, 2 DOSE PER 1 DAY)
  183. MESALAMINE [Suspect]
     Active Substance: MESALAMINE
     Dosage: 3 GRAM, QD (1 DOSE PER 1 DAY)
  184. MESALAMINE [Suspect]
     Active Substance: MESALAMINE
     Dosage: 12 DOSAGE FORM, QD (6 DOSAGE FORM, 2 DOSE PER 1 DAY)
  185. MESALAMINE [Suspect]
     Active Substance: MESALAMINE
     Dosage: 2.4 GRAM, MONTHLY
  186. MESALAMINE [Suspect]
     Active Substance: MESALAMINE
  187. MESALAMINE [Suspect]
     Active Substance: MESALAMINE
  188. BUDESONIDE [Suspect]
     Active Substance: BUDESONIDE
     Indication: Colitis ulcerative
     Dosage: 1 DOSAGE FORM, QD
     Dates: start: 201707, end: 201707
  189. BUDESONIDE [Suspect]
     Active Substance: BUDESONIDE
  190. BUDESONIDE [Suspect]
     Active Substance: BUDESONIDE
  191. BUDESONIDE [Suspect]
     Active Substance: BUDESONIDE
  192. BUDESONIDE [Suspect]
     Active Substance: BUDESONIDE
     Dosage: 1 DOSAGE FORM, QD
     Dates: start: 20170701
  193. BUDESONIDE [Suspect]
     Active Substance: BUDESONIDE
  194. BUDESONIDE [Suspect]
     Active Substance: BUDESONIDE
  195. BUDESONIDE [Suspect]
     Active Substance: BUDESONIDE
  196. BUDESONIDE [Suspect]
     Active Substance: BUDESONIDE
     Dosage: 8 DOSAGE FORM, QD (1 DOSE PER DAY)
  197. BUDESONIDE [Suspect]
     Active Substance: BUDESONIDE
     Dosage: UNK, QD (A DOSE PER DAY)
  198. BUDESONIDE [Suspect]
     Active Substance: BUDESONIDE
     Dosage: 1 DOSAGE FORM, QID
     Dates: start: 201707
  199. BUDESONIDE [Suspect]
     Active Substance: BUDESONIDE
     Dosage: 245 DOSAGE FORM, QID (1 DOSE PER DAY)
  200. BUDESONIDE [Suspect]
     Active Substance: BUDESONIDE
  201. BUDESONIDE [Suspect]
     Active Substance: BUDESONIDE
  202. BUDESONIDE [Suspect]
     Active Substance: BUDESONIDE
  203. BUDESONIDE [Suspect]
     Active Substance: BUDESONIDE
     Indication: Colitis ulcerative
     Dosage: 1 DOSAGE FORM, QD (1 DOSE PER ONE DAY)
  204. BUDESONIDE [Suspect]
     Active Substance: BUDESONIDE
     Dosage: 1 DOSAGE FORM, QD (1 DOSE PER ONE DAY)
  205. BUDESONIDE [Suspect]
     Active Substance: BUDESONIDE
     Dosage: 8 DOSAGE FORM, BIMONTHLY (1 DOSE PER 8W)
     Dates: start: 201707
  206. BUDESONIDE [Suspect]
     Active Substance: BUDESONIDE
     Dosage: 8 DOSAGE FORM, BIMONTHLY (1 DOSE PER 8W)
  207. BUDESONIDE [Suspect]
     Active Substance: BUDESONIDE
     Dosage: UNK, BIMONTHLY (1 DOSE PER 8W)
  208. BUDESONIDE [Suspect]
     Active Substance: BUDESONIDE
  209. BUDESONIDE [Suspect]
     Active Substance: BUDESONIDE
     Dosage: 8 DOSAGE FORM, QD (1 DOSE PER 1 DAY)
  210. ASPIRIN [Suspect]
     Active Substance: ASPIRIN
     Indication: Ill-defined disorder
  211. ASPIRIN [Suspect]
     Active Substance: ASPIRIN
     Indication: Colitis ulcerative
  212. TOFACITINIB [Suspect]
     Active Substance: TOFACITINIB
     Indication: Colitis ulcerative
  213. CALCIUM CARBONATE\CHOLECALCIFEROL [Suspect]
     Active Substance: CALCIUM CARBONATE\CHOLECALCIFEROL
     Indication: Product used for unknown indication
  214. CALCIUM CARBONATE\CHOLECALCIFEROL [Suspect]
     Active Substance: CALCIUM CARBONATE\CHOLECALCIFEROL
     Dosage: 100 MILLIGRAM, QD
  215. ROSUVASTATIN CALCIUM [Suspect]
     Active Substance: ROSUVASTATIN CALCIUM
     Indication: Ill-defined disorder
     Dosage: 10 MILLIGRAM, QD (1 EVERY 1 DAYS)
  216. ROSUVASTATIN CALCIUM [Suspect]
     Active Substance: ROSUVASTATIN CALCIUM
     Indication: Blood cholesterol increased
  217. ROSUVASTATIN CALCIUM [Suspect]
     Active Substance: ROSUVASTATIN CALCIUM
  218. ROSUVASTATIN CALCIUM [Suspect]
     Active Substance: ROSUVASTATIN CALCIUM
  219. ROSUVASTATIN CALCIUM [Suspect]
     Active Substance: ROSUVASTATIN CALCIUM
     Indication: Ill-defined disorder
  220. ROSUVASTATIN CALCIUM [Suspect]
     Active Substance: ROSUVASTATIN CALCIUM
     Indication: Blood cholesterol increased
     Dosage: 10 MILLIGRAM, QD (1 EVERY 1 DAYS)
  221. ROSUVASTATIN CALCIUM [Suspect]
     Active Substance: ROSUVASTATIN CALCIUM
  222. ROSUVASTATIN CALCIUM [Suspect]
     Active Substance: ROSUVASTATIN CALCIUM
  223. MESALAMINE [Suspect]
     Active Substance: MESALAMINE
     Indication: Colitis ulcerative
  224. MESALAMINE [Suspect]
     Active Substance: MESALAMINE
  225. MESALAMINE [Suspect]
     Active Substance: MESALAMINE
     Dates: start: 20160101, end: 20161001
  226. MESALAMINE [Suspect]
     Active Substance: MESALAMINE
  227. MESALAMINE [Suspect]
     Active Substance: MESALAMINE
  228. MESALAMINE [Suspect]
     Active Substance: MESALAMINE
     Dosage: UNK, QD (1 EVERY1 DAYS)
  229. MESALAMINE [Suspect]
     Active Substance: MESALAMINE
  230. MESALAMINE [Suspect]
     Active Substance: MESALAMINE
  231. MESALAMINE [Suspect]
     Active Substance: MESALAMINE
  232. MESALAMINE [Suspect]
     Active Substance: MESALAMINE
  233. MESALAMINE [Suspect]
     Active Substance: MESALAMINE
     Dosage: 6 DOSAGE FORM, QD (1 EVERY 1 DAYS)
  234. MESALAMINE [Suspect]
     Active Substance: MESALAMINE
     Dosage: 3 GRAM, QD (1 EVERY 1 DAYS)
  235. MESALAMINE [Suspect]
     Active Substance: MESALAMINE
     Dosage: 2.4 GRAM, QD QD (1 EVERY 1 DAYS)
  236. MESALAMINE [Suspect]
     Active Substance: MESALAMINE
     Dosage: 2.4 GRAM, QD QD (1 EVERY 1 DAYS)
  237. MESALAMINE [Suspect]
     Active Substance: MESALAMINE
     Dosage: 6 DOSAGE FORM, QD (3 DOSAGE FORM, 2 EVERY 1 DAYS)
  238. MESALAMINE [Suspect]
     Active Substance: MESALAMINE
  239. MESALAMINE [Suspect]
     Active Substance: MESALAMINE
     Dosage: 1 DOSAGE FORM, QD (1 EVERY 1 DAYS)
  240. MESALAMINE [Suspect]
     Active Substance: MESALAMINE
     Dosage: 4.8 MILLIGRAM, QD QD (1 EVERY 1 DAYS)
  241. MESALAMINE [Suspect]
     Active Substance: MESALAMINE
  242. MESALAMINE [Suspect]
     Active Substance: MESALAMINE
  243. MESALAMINE [Suspect]
     Active Substance: MESALAMINE
  244. MESALAMINE [Suspect]
     Active Substance: MESALAMINE
     Dosage: 3 DOSAGE FORM, BID (2 EVERY 1 DAYS)
  245. MESALAMINE [Suspect]
     Active Substance: MESALAMINE
     Indication: Colitis ulcerative
     Dosage: 3 GRAM, BID (EVERY 12 HOURS)
  246. MESALAMINE [Suspect]
     Active Substance: MESALAMINE
  247. MESALAMINE [Suspect]
     Active Substance: MESALAMINE
     Dosage: 1 DOSAGE FORM, QD (1 EVERY 1 DAYS)
  248. MESALAMINE [Suspect]
     Active Substance: MESALAMINE
     Dosage: 12 DOSAGE FORM, QD (1 EVERY 1 DAYS)
  249. MESALAMINE [Suspect]
     Active Substance: MESALAMINE
  250. MESALAMINE [Suspect]
     Active Substance: MESALAMINE
     Dosage: 4.8 DOSAGE FORM, QD  (1 EVERY 1 DAYS)
  251. MESALAMINE [Suspect]
     Active Substance: MESALAMINE
     Dosage: 4.8 DOSAGE FORM, QD  (1 EVERY 1 DAYS)
     Dates: start: 20161001
  252. MESALAMINE [Suspect]
     Active Substance: MESALAMINE
     Dosage: 6 DOSAGE FORM, QD (1 EVERY 1 DAYS)
  253. MESALAMINE [Suspect]
     Active Substance: MESALAMINE
     Dosage: 3 GRAM, BID (2 EVERY 1 DAYS)
  254. MESALAMINE [Suspect]
     Active Substance: MESALAMINE
     Dosage: 1 DOSAGE FORM, QD (1 EVERY 1 DAYS)
  255. MESALAMINE [Suspect]
     Active Substance: MESALAMINE
     Dosage: 6 DOSAGE FORM, QD (3 GRAM, EVERY 12 HOURS)
  256. MESALAMINE [Suspect]
     Active Substance: MESALAMINE
  257. MESALAMINE [Suspect]
     Active Substance: MESALAMINE
     Dosage: 6 DOSAGE FORM, QD (3 DOSAGE FORM, Q12H)
     Dates: start: 20161001
  258. MESALAMINE [Suspect]
     Active Substance: MESALAMINE
     Dosage: 12 DOSAGE FORM, QD (6.0 DOSAGE FORM, 2 EVERY 1 DAYS)
     Dates: start: 20161001
  259. MESALAMINE [Suspect]
     Active Substance: MESALAMINE
     Dosage: 1 DOSAGE FORM, QD (6.0 DOSAGE FORM, 1 EVERY 1 DAYS)
  260. MESALAMINE [Suspect]
     Active Substance: MESALAMINE
     Dosage: 6 GRAM, QD (3 GRAM, 2 EVERY 1 DAYS)
  261. ACETAMINOPHEN [Suspect]
     Active Substance: ACETAMINOPHEN
     Indication: Ill-defined disorder
     Dosage: 200 MILLIGRAM, TID
  262. ROSUVASTATIN CALCIUM [Suspect]
     Active Substance: ROSUVASTATIN CALCIUM
     Indication: Ill-defined disorder
  263. ROSUVASTATIN CALCIUM [Suspect]
     Active Substance: ROSUVASTATIN CALCIUM
     Indication: Blood cholesterol increased
  264. ROSUVASTATIN CALCIUM [Suspect]
     Active Substance: ROSUVASTATIN CALCIUM
     Dosage: 10 MILLIGRAM, QD (1 EVERY 1 DAYS)
  265. ROSUVASTATIN CALCIUM [Suspect]
     Active Substance: ROSUVASTATIN CALCIUM
  266. EPINEPHRINE [Suspect]
     Active Substance: EPINEPHRINE
     Indication: Product used for unknown indication
  267. EPINEPHRINE [Suspect]
     Active Substance: EPINEPHRINE
     Indication: Product used for unknown indication
  268. ACETAMINOPHEN [Suspect]
     Active Substance: ACETAMINOPHEN
     Indication: Ill-defined disorder
     Dosage: 2000 MILLIGRAM, QD (500 MILLIRAM, 4 DOSE PER 1 DAY)
  269. ACETAMINOPHEN [Suspect]
     Active Substance: ACETAMINOPHEN
  270. ACETAMINOPHEN [Suspect]
     Active Substance: ACETAMINOPHEN
     Dosage: 500 MILLIGRAM, QID (4 EVERY 1 DAY)
  271. ROSUVASTATIN CALCIUM [Suspect]
     Active Substance: ROSUVASTATIN CALCIUM
     Indication: Product used for unknown indication
  272. ROSUVASTATIN CALCIUM [Suspect]
     Active Substance: ROSUVASTATIN CALCIUM
     Dosage: 10 MILLIGRAM, QD (1 DOSE PER 1 DAY )
  273. ROSUVASTATIN CALCIUM [Suspect]
     Active Substance: ROSUVASTATIN CALCIUM
     Indication: Ill-defined disorder
  274. ROSUVASTATIN CALCIUM [Suspect]
     Active Substance: ROSUVASTATIN CALCIUM
     Dosage: 10 MILLIGRAM, QD
  275. MESALAMINE [Suspect]
     Active Substance: MESALAMINE
     Indication: Colitis ulcerative
     Dates: start: 20160101, end: 20160101
  276. MESALAMINE [Suspect]
     Active Substance: MESALAMINE
     Dates: start: 20160101, end: 201610
  277. MESALAMINE [Suspect]
     Active Substance: MESALAMINE
  278. MESALAMINE [Suspect]
     Active Substance: MESALAMINE
  279. MESALAMINE [Suspect]
     Active Substance: MESALAMINE
     Dates: start: 201601, end: 201610
  280. MESALAMINE [Suspect]
     Active Substance: MESALAMINE
     Dosage: 50 MILLIGRAM, QD (1 DOSE PER 1 DAY)
  281. MESALAMINE [Suspect]
     Active Substance: MESALAMINE
     Dosage: 3 DOSAGE FORM, BID (2 DOSE PER DAY)
  282. MESALAMINE [Suspect]
     Active Substance: MESALAMINE
     Dosage: 6 DOSAGE FORM, QD (1 DOSE PER DAY)
  283. MESALAMINE [Suspect]
     Active Substance: MESALAMINE
     Dosage: 40 MILLIGRAM, QD (1 DOSE PER 1 DAY)
  284. MESALAMINE [Suspect]
     Active Substance: MESALAMINE
     Dosage: 1 DOSAGE FORM, QD (1 DOSE PER DAY)
  285. MESALAMINE [Suspect]
     Active Substance: MESALAMINE
  286. MESALAMINE [Suspect]
     Active Substance: MESALAMINE
     Dosage: 12 DOSAGE FORM, QD (1 DOSE PER DAY)
  287. MESALAMINE [Suspect]
     Active Substance: MESALAMINE
     Dosage: 4.8 GRAM, QD (1 DOSE PER 1 DAY)
  288. MESALAMINE [Suspect]
     Active Substance: MESALAMINE
     Dosage: 60 DOSAGE FORM, BID (2 DOSAGE FORM PER DAY)
  289. MESALAMINE [Suspect]
     Active Substance: MESALAMINE
     Dosage: 3 GRAM, QD (1 DOSE PER DAY)
  290. MESALAMINE [Suspect]
     Active Substance: MESALAMINE
     Dosage: 24 DOSAGE FORM, QD (1 DOSAGE FORM PER DAY)
  291. MESALAMINE [Suspect]
     Active Substance: MESALAMINE
     Dosage: 6 DOSAGE FORM, BID (2 DOSE PER DAY)
  292. MESALAMINE [Suspect]
     Active Substance: MESALAMINE
  293. MESALAMINE [Suspect]
     Active Substance: MESALAMINE
  294. ASPIRIN [Suspect]
     Active Substance: ASPIRIN
     Indication: Ill-defined disorder
  295. ASPIRIN [Suspect]
     Active Substance: ASPIRIN
     Indication: Product used for unknown indication
  296. MESALAMINE [Suspect]
     Active Substance: MESALAMINE
     Indication: Colitis ulcerative
     Dosage: 12 DOSAGE FORM, QD (1 DOSE PER DAY)
  297. MESALAMINE [Suspect]
     Active Substance: MESALAMINE
     Dosage: 2.4 GRAM, QD (1 DOSE PER DAY)
     Dates: start: 20161001
  298. MESALAMINE [Suspect]
     Active Substance: MESALAMINE
     Dosage: 3 GRAM, QD (1 DOSE PER DAY)
     Dates: start: 20161001
  299. MESALAMINE [Suspect]
     Active Substance: MESALAMINE
     Dosage: 4.8 GRAM, QD  (1 DOSE PER DAY)
     Dates: start: 20161001
  300. MESALAMINE [Suspect]
     Active Substance: MESALAMINE
  301. MESALAMINE [Suspect]
     Active Substance: MESALAMINE
  302. MESALAMINE [Suspect]
     Active Substance: MESALAMINE
     Dosage: 6 DOSAGE FORM, BID (2 DOSE PER DAY)
  303. MESALAMINE [Suspect]
     Active Substance: MESALAMINE
  304. MESALAMINE [Suspect]
     Active Substance: MESALAMINE
     Dosage: 6 DOSAGE FORM, QD (1 DOSE PER DAY)
     Dates: start: 20161001
  305. MESALAMINE [Suspect]
     Active Substance: MESALAMINE
     Dosage: 1 DOSAGE FORM, QD (1 DOSE PER DAY)
  306. MESALAMINE [Suspect]
     Active Substance: MESALAMINE
     Dosage: 3 DOSAGE FORM, BID (1 DOSE PER 12 HR)
  307. MESALAMINE [Suspect]
     Active Substance: MESALAMINE
     Dosage: 40 MILLIGRAM, QD (1 DOSE PER DAY)
  308. MESALAMINE [Suspect]
     Active Substance: MESALAMINE
     Dosage: 50 MILLIGRAM, QD (1 DOSE PER DAY)
  309. LISDEXAMFETAMINE DIMESYLATE [Suspect]
     Active Substance: LISDEXAMFETAMINE DIMESYLATE
     Indication: Product used for unknown indication
  310. LISDEXAMFETAMINE DIMESYLATE [Suspect]
     Active Substance: LISDEXAMFETAMINE DIMESYLATE
  311. ADALIMUMAB [Suspect]
     Active Substance: ADALIMUMAB
     Indication: Crohn^s disease
  312. ADALIMUMAB [Suspect]
     Active Substance: ADALIMUMAB
     Indication: Deep vein thrombosis
  313. ADALIMUMAB [Suspect]
     Active Substance: ADALIMUMAB
     Indication: Colitis ulcerative
  314. ADALIMUMAB [Suspect]
     Active Substance: ADALIMUMAB
  315. ADALIMUMAB [Suspect]
     Active Substance: ADALIMUMAB
  316. ENTYVIO [Suspect]
     Active Substance: VEDOLIZUMAB
     Indication: Colitis ulcerative
  317. ENTYVIO [Suspect]
     Active Substance: VEDOLIZUMAB
     Indication: Deep vein thrombosis
  318. CORTISONE [Suspect]
     Active Substance: CORTISONE
     Indication: Colitis ulcerative
     Dosage: 8 MILLIGRAM, QW (1 EVERY 1 WEEKS)
  319. CORTISONE [Suspect]
     Active Substance: CORTISONE
     Indication: Crohn^s disease
  320. CORTISONE [Suspect]
     Active Substance: CORTISONE
     Dosage: 6 MILLIGRAM, QW (1 EVERY 1 WEEK)
  321. CORTISONE [Suspect]
     Active Substance: CORTISONE
  322. CORTISONE [Suspect]
     Active Substance: CORTISONE
     Dosage: 1 DOSAGE FORM, QD (1 EVERY 1 DAYS)
  323. CORTISONE [Suspect]
     Active Substance: CORTISONE
     Dosage: 8 DOSAGE FORM, QD (1 EVERY 1 DAY)
  324. CORTISONE [Suspect]
     Active Substance: CORTISONE
     Dosage: 1 DOSAGE FORM, QD (1 EVERY 1 DAYS)
  325. CORTISONE [Suspect]
     Active Substance: CORTISONE
     Dosage: 8 DOSAGE FORM, QD (1 EVERY 1 DAY)
  326. CORTISONE [Suspect]
     Active Substance: CORTISONE
     Dosage: 1 DOSAGE FORM, 6XW (1 DOSE PER 6W)
  327. CORTISONE [Suspect]
     Active Substance: CORTISONE
     Dosage: 8 MILLIGRAM, BIMONTHLY (1 DOSE PER 8W)
  328. CORTISONE [Suspect]
     Active Substance: CORTISONE
     Dosage: 1 DOSAGE FORM, QD (1 EVERY 1 DAYS)
  329. CORTISONE [Suspect]
     Active Substance: CORTISONE
     Dosage: UNK, QD (1 EVERY 1 DAY)
  330. CORTISONE [Suspect]
     Active Substance: CORTISONE
     Dosage: UNK, BIMONTHLY (1 EVERY 8 WEEKS)
  331. CORTISONE [Suspect]
     Active Substance: CORTISONE
     Dosage: UNK, BIMONTHLY (1 EVERY 8 WEEKS)
  332. CORTISONE [Suspect]
     Active Substance: CORTISONE
     Dosage: 8 DOSAGE FORM, QD (1 EVERY 1 DAY)
  333. CORTISONE [Suspect]
     Active Substance: CORTISONE
  334. CORTISONE [Suspect]
     Active Substance: CORTISONE
     Dosage: UNK, 6XW (1 EVERY 6 WEEK)
  335. CORTISONE [Suspect]
     Active Substance: CORTISONE
  336. CORTISONE [Suspect]
     Active Substance: CORTISONE
  337. CORTISONE [Suspect]
     Active Substance: CORTISONE
     Dosage: 3 DOSAGE FORM, BID (1 EVERY 12 HOURS)
  338. CORTISONE [Suspect]
     Active Substance: CORTISONE
  339. ASPIRIN [Suspect]
     Active Substance: ASPIRIN
     Indication: Ill-defined disorder
  340. ESOMEPRAZOLE [Suspect]
     Active Substance: ESOMEPRAZOLE
     Indication: Gastritis
  341. WARFARIN [Suspect]
     Active Substance: WARFARIN
     Indication: Deep vein thrombosis
  342. WARFARIN [Suspect]
     Active Substance: WARFARIN
     Indication: Colitis ulcerative
  343. WARFARIN [Suspect]
     Active Substance: WARFARIN
     Indication: Crohn^s disease
  344. WARFARIN [Suspect]
     Active Substance: WARFARIN
  345. WARFARIN [Suspect]
     Active Substance: WARFARIN
     Dosage: 1 DOSAGE FORM, QD
     Dates: start: 201707
  346. WARFARIN [Suspect]
     Active Substance: WARFARIN
  347. WARFARIN [Suspect]
     Active Substance: WARFARIN
  348. WARFARIN [Suspect]
     Active Substance: WARFARIN
  349. WARFARIN [Suspect]
     Active Substance: WARFARIN
  350. WARFARIN [Suspect]
     Active Substance: WARFARIN
  351. WARFARIN [Suspect]
     Active Substance: WARFARIN
  352. WARFARIN [Suspect]
     Active Substance: WARFARIN
  353. WARFARIN [Suspect]
     Active Substance: WARFARIN
  354. WARFARIN [Suspect]
     Active Substance: WARFARIN
     Dosage: 1 DOSAGE FORM, QD (1 DOSE PER DAY)
     Dates: start: 2009
  355. WARFARIN [Suspect]
     Active Substance: WARFARIN
  356. WARFARIN [Suspect]
     Active Substance: WARFARIN
  357. WARFARIN [Suspect]
     Active Substance: WARFARIN
     Dosage: 8 DOSAGE FORM, QD (1 EVERY 1 DAY)
  358. WARFARIN [Suspect]
     Active Substance: WARFARIN
     Dosage: 1 DOSAGE FORM, QD (1 DOSE PER DAY)
  359. FELODIPINE [Suspect]
     Active Substance: FELODIPINE
     Indication: Hypertension
     Dosage: 3 MILLIGRAM, QD
  360. FELODIPINE [Suspect]
     Active Substance: FELODIPINE
     Dosage: 5 MILLIGRAM, QD (2.5 MILLIGRAM, 2 DOSE PER 1 D )
  361. FELODIPINE [Suspect]
     Active Substance: FELODIPINE
     Dosage: 2.5 MILLIGRAM, QD
  362. FELODIPINE [Suspect]
     Active Substance: FELODIPINE
     Dosage: 2.5 MILLIGRAM, BID (2 EVERY 1 DAY)
  363. FELODIPINE [Suspect]
     Active Substance: FELODIPINE
  364. HYDROCORTISONE [Suspect]
     Active Substance: HYDROCORTISONE
     Indication: Colitis ulcerative
     Dosage: 1 DOSAGE FORM, QD
     Dates: start: 201807, end: 201807
  365. HYDROCORTISONE [Suspect]
     Active Substance: HYDROCORTISONE
  366. HYDROCORTISONE [Suspect]
     Active Substance: HYDROCORTISONE
     Dosage: 8 DOSAGE FORM, QD (1 EVERY 1 DAY)
     Dates: start: 201807
  367. HYDROCORTISONE [Suspect]
     Active Substance: HYDROCORTISONE
  368. HYDROCORTISONE [Suspect]
     Active Substance: HYDROCORTISONE
  369. HYDROCORTISONE [Suspect]
     Active Substance: HYDROCORTISONE
     Dosage: 1 DOSAGE FORM, QD (1 EVERY 1 DAYS)
  370. HYDROCORTISONE [Suspect]
     Active Substance: HYDROCORTISONE
  371. HYDROCORTISONE [Suspect]
     Active Substance: HYDROCORTISONE
     Dosage: 8 DOSAGE FORM, QD (1 DOSE PER 1D)
     Dates: start: 201807
  372. HYDROCORTISONE [Suspect]
     Active Substance: HYDROCORTISONE
  373. HYDROCORTISONE [Suspect]
     Active Substance: HYDROCORTISONE
     Dosage: 3 DOSAGE FORM, BID(6 DOSAGE FORM, QD)
     Dates: start: 201610
  374. HYDROCORTISONE [Suspect]
     Active Substance: HYDROCORTISONE
     Dosage: 1 DOSAGE FORM, QD (1 EVERY 1 DAYS)
  375. HYDROCORTISONE [Suspect]
     Active Substance: HYDROCORTISONE
  376. HYDROCORTISONE [Suspect]
     Active Substance: HYDROCORTISONE
     Dosage: 1 DOSAGE FORM, QD (1 EVERY 1 DAYS)
     Dates: start: 201807
  377. HYDROCORTISONE [Suspect]
     Active Substance: HYDROCORTISONE
  378. HYDROCORTISONE [Suspect]
     Active Substance: HYDROCORTISONE
     Dosage: 8 DOSAGE FORM, QD (1 EVERY 1 DAYS)
  379. HYDROCORTISONE [Suspect]
     Active Substance: HYDROCORTISONE
  380. HYDROCORTISONE [Suspect]
     Active Substance: HYDROCORTISONE
     Dosage: 3 DOSAGE FORM, BID (2 EVERY 1 DAYS)
  381. HYDROCORTISONE [Suspect]
     Active Substance: HYDROCORTISONE
  382. HYDROCORTISONE [Suspect]
     Active Substance: HYDROCORTISONE
  383. HYDROCORTISONE [Suspect]
     Active Substance: HYDROCORTISONE
     Dosage: 4 DOSAGE FORM, QD (1 DOSAGE FORM, QD)
     Dates: start: 201807
  384. HYDROCORTISONE [Suspect]
     Active Substance: HYDROCORTISONE
     Dosage: 6 DOSAGE FORM, QD (1 DOSE PER DAY)
  385. ASACOL [Suspect]
     Active Substance: MESALAMINE
     Indication: Colitis ulcerative
     Dosage: 40 MILLIGRAM, QD (1 EVERY 1 DAYS)
  386. ASACOL [Suspect]
     Active Substance: MESALAMINE
     Dosage: 24 MILLIGRAM, QD (1 EVERY 1 DAY)
  387. ASACOL [Suspect]
     Active Substance: MESALAMINE
     Dosage: 4.8 GRAM, QD (1 EVERY 1 DAY)
     Dates: start: 20161001
  388. ASACOL [Suspect]
     Active Substance: MESALAMINE
     Dosage: 2.4 GRAM, QD (ONCE IN A DAY)
     Dates: start: 20161001
  389. ASACOL [Suspect]
     Active Substance: MESALAMINE
     Dosage: 50 MILLIGRAM, QD (1 EVERY 1 DAYS)
  390. ASACOL [Suspect]
     Active Substance: MESALAMINE
     Dosage: 3 GRAM, QD (1 EVERY 1 DAY)
     Dates: start: 20161001
  391. ASACOL [Suspect]
     Active Substance: MESALAMINE
     Dosage: 12 DOSAGE FORM, QD (1 EVERY 1 DAY)
  392. ASACOL [Suspect]
     Active Substance: MESALAMINE
     Dosage: 6 DOSAGE FORM, QD (1 EVERY 1 DAY)
     Dates: start: 20161001
  393. ASACOL [Suspect]
     Active Substance: MESALAMINE
     Dosage: 1 DOSAGE FORM, QD (1 EVERY 1 DAYS)
  394. ASACOL [Suspect]
     Active Substance: MESALAMINE
     Dosage: 6 DOSAGE FORM, QD (1 EVERY 1 DAY)
  395. ASACOL [Suspect]
     Active Substance: MESALAMINE
     Dosage: 3 DOSAGE FORM, BID (2 EVERY 1 DAY)
  396. ASACOL [Suspect]
     Active Substance: MESALAMINE
  397. ASACOL [Suspect]
     Active Substance: MESALAMINE
  398. ASACOL [Suspect]
     Active Substance: MESALAMINE
     Dosage: 6 DOSAGE FORM, QD (3 DOSAGE FORM, 2 DOSE PER 1 D)
  399. ASACOL [Suspect]
     Active Substance: MESALAMINE
  400. ASACOL [Suspect]
     Active Substance: MESALAMINE
     Dosage: 1 DOSAGE FORM, QD (1 EVERY 1 DAYS)
  401. MESALAMINE [Suspect]
     Active Substance: MESALAMINE
     Indication: Colitis ulcerative
  402. MESALAMINE [Suspect]
     Active Substance: MESALAMINE
  403. MESALAMINE [Suspect]
     Active Substance: MESALAMINE
     Dosage: 6 DOSAGE FORM, QD (1 EVERY 1 DAY)
  404. MESALAMINE [Suspect]
     Active Substance: MESALAMINE
  405. MESALAMINE [Suspect]
     Active Substance: MESALAMINE
  406. MESALAMINE [Suspect]
     Active Substance: MESALAMINE
     Dosage: 2.4 GRAM, QD (1 EVERY 1 DAY)
  407. MESALAMINE [Suspect]
     Active Substance: MESALAMINE
     Dosage: 12 DOSAGE FORM, QD (1 EVERY 1 DAY)
  408. MESALAMINE [Suspect]
     Active Substance: MESALAMINE
     Dosage: 3 GRAM, QD (1 EVERY 1 DAY)
  409. MESALAMINE [Suspect]
     Active Substance: MESALAMINE
     Dosage: 24 DOSAGE FORM, QD (1 EVERY 12 HOURS)
  410. MESALAMINE [Suspect]
     Active Substance: MESALAMINE
     Dosage: 4.8 GRAM, QD (1 EVERY 1 DAY)
  411. MESALAMINE [Suspect]
     Active Substance: MESALAMINE
     Dosage: 50 MILLIGRAM, QD (1 EVERY 1 DAY)
  412. MESALAMINE [Suspect]
     Active Substance: MESALAMINE
     Dosage: 4.8 GRAM, QD (1 EVERY 1 DAY)
  413. MESALAMINE [Suspect]
     Active Substance: MESALAMINE
     Dosage: 2.4 GRAM, QD (1 EVERY 1 DAY)
  414. MESALAMINE [Suspect]
     Active Substance: MESALAMINE
  415. MESALAMINE [Suspect]
     Active Substance: MESALAMINE
  416. MESALAMINE [Suspect]
     Active Substance: MESALAMINE
  417. MESALAMINE [Suspect]
     Active Substance: MESALAMINE
  418. MESALAMINE [Suspect]
     Active Substance: MESALAMINE
     Dosage: 1 DOSAGE FORM, QD (1 DOSE PER 1D)
  419. MESALAMINE [Suspect]
     Active Substance: MESALAMINE
     Dosage: 3 GRAM, QD (1 EVERY 1 DAY)
  420. MESALAMINE [Suspect]
     Active Substance: MESALAMINE
     Dosage: 6 DOSAGE FORM, QD (3 DOSAGE FORM, 2 DOSE PER 1D
  421. MESALAMINE [Suspect]
     Active Substance: MESALAMINE
  422. MESALAMINE [Suspect]
     Active Substance: MESALAMINE
     Dosage: 50 MILLIGRAM, QD (1 EVERY 1 DAY)
  423. MESALAMINE [Suspect]
     Active Substance: MESALAMINE
  424. MESALAMINE [Suspect]
     Active Substance: MESALAMINE
  425. MESALAMINE [Suspect]
     Active Substance: MESALAMINE
  426. MESALAMINE [Suspect]
     Active Substance: MESALAMINE
     Dosage: 1 DOSAGE FORM, QD (1 DOSE PER 1D)
  427. MESALAMINE [Suspect]
     Active Substance: MESALAMINE
  428. MESALAMINE [Suspect]
     Active Substance: MESALAMINE
     Dosage: 8 DOSAGE FORM, BIMONTHLY (1 EVERY 8 WEEKS)
  429. MESALAMINE [Suspect]
     Active Substance: MESALAMINE
     Dosage: 2.4 GRAM, QD (1 EVERY 1 DAY)
  430. MESALAMINE [Suspect]
     Active Substance: MESALAMINE
  431. MESALAMINE [Suspect]
     Active Substance: MESALAMINE
  432. MESALAMINE [Suspect]
     Active Substance: MESALAMINE
     Dosage: 3 DOSAGE FORM, BID (1 EVERY 12 HOURS)
  433. MESALAMINE [Suspect]
     Active Substance: MESALAMINE
     Dosage: 4.8 GRAM, QD (1 EVERY 1 DAY)
  434. MESALAMINE [Suspect]
     Active Substance: MESALAMINE
     Dosage: UNK, QD (1 EVERY 1 DAY)
  435. MESALAMINE [Suspect]
     Active Substance: MESALAMINE
  436. MESALAMINE [Suspect]
     Active Substance: MESALAMINE
  437. MESALAMINE [Suspect]
     Active Substance: MESALAMINE
  438. MESALAMINE [Suspect]
     Active Substance: MESALAMINE
  439. MESALAMINE [Suspect]
     Active Substance: MESALAMINE
     Dosage: 2.4 GRAM, QD (1 EVERY 1 DAY)
  440. MESALAMINE [Suspect]
     Active Substance: MESALAMINE
     Dosage: UNK, QD (1 EVERY 1 DAY)
  441. MESALAMINE [Suspect]
     Active Substance: MESALAMINE
  442. MESALAMINE [Suspect]
     Active Substance: MESALAMINE
  443. MESALAMINE [Suspect]
     Active Substance: MESALAMINE
     Dosage: 4.8 MILLIGRAM, QD (1 EVERY 1 DAY)
  444. MESALAMINE [Suspect]
     Active Substance: MESALAMINE
     Dosage: 4.8 MILLIGRAM, QD (1 EVERY 1 DAY)
  445. CORTIFOAM [Suspect]
     Active Substance: HYDROCORTISONE ACETATE
     Indication: Colitis ulcerative
  446. CORTIFOAM [Suspect]
     Active Substance: HYDROCORTISONE ACETATE
     Indication: Deep vein thrombosis
  447. CORTIFOAM [Suspect]
     Active Substance: HYDROCORTISONE ACETATE
     Indication: Colitis ulcerative
  448. CORTIFOAM [Suspect]
     Active Substance: HYDROCORTISONE ACETATE
     Indication: Deep vein thrombosis
  449. CORTIFOAM [Suspect]
     Active Substance: HYDROCORTISONE ACETATE
  450. CORTIFOAM [Suspect]
     Active Substance: HYDROCORTISONE ACETATE
     Dosage: 1 DOSAGE FORM, QD
     Dates: start: 201707
  451. CORTIFOAM [Suspect]
     Active Substance: HYDROCORTISONE ACETATE
     Dosage: 1 DOSAGE FORM, QD
     Dates: start: 201707
  452. CORTIFOAM [Suspect]
     Active Substance: HYDROCORTISONE ACETATE
     Dosage: 1 DOSAGE FORM, QD (1 EVERY 1 DAYS)
  453. CORTIFOAM [Suspect]
     Active Substance: HYDROCORTISONE ACETATE
  454. CORTIFOAM [Suspect]
     Active Substance: HYDROCORTISONE ACETATE
     Dosage: 1 DOSAGE FORM, QD (1 EVERY 1 DAYS)
  455. CORTIFOAM [Suspect]
     Active Substance: HYDROCORTISONE ACETATE
  456. CORTIFOAM [Suspect]
     Active Substance: HYDROCORTISONE ACETATE
  457. CORTIFOAM [Suspect]
     Active Substance: HYDROCORTISONE ACETATE
  458. CORTIFOAM [Suspect]
     Active Substance: HYDROCORTISONE ACETATE
     Dosage: 32 DOSAGE FORM, QD(8 DOSAGE FORM, Q8WK)
     Dates: start: 201707
  459. CORTIFOAM [Suspect]
     Active Substance: HYDROCORTISONE ACETATE
  460. HYDROCORTISONE ACETATE [Suspect]
     Active Substance: HYDROCORTISONE ACETATE
     Indication: Colitis ulcerative
     Dosage: 1 DOSAGE FORM, QD
  461. HYDROCORTISONE ACETATE [Suspect]
     Active Substance: HYDROCORTISONE ACETATE
     Indication: Crohn^s disease
  462. HYDROCORTISONE ACETATE [Suspect]
     Active Substance: HYDROCORTISONE ACETATE
     Indication: Colitis ulcerative
  463. HYDROCORTISONE ACETATE [Suspect]
     Active Substance: HYDROCORTISONE ACETATE
     Dosage: 1 DOSAGE FORM
     Dates: start: 201807
  464. HYDROCORTISONE ACETATE [Suspect]
     Active Substance: HYDROCORTISONE ACETATE
  465. HYDROCORTISONE ACETATE [Suspect]
     Active Substance: HYDROCORTISONE ACETATE
  466. HYDROCORTISONE ACETATE [Suspect]
     Active Substance: HYDROCORTISONE ACETATE
  467. HYDROCORTISONE ACETATE [Suspect]
     Active Substance: HYDROCORTISONE ACETATE
     Dosage: 8 DOSAGE FORM, QD
     Dates: start: 201707
  468. HYDROCORTISONE ACETATE [Suspect]
     Active Substance: HYDROCORTISONE ACETATE
     Dosage: 1 DOSAGE FORM, QD
     Dates: start: 201707
  469. HYDROCORTISONE ACETATE [Suspect]
     Active Substance: HYDROCORTISONE ACETATE
  470. HYDROCORTISONE ACETATE [Suspect]
     Active Substance: HYDROCORTISONE ACETATE
  471. HYDROCORTISONE ACETATE [Suspect]
     Active Substance: HYDROCORTISONE ACETATE
     Dates: start: 20160101, end: 20161001
  472. CORTIFOAM [Suspect]
     Active Substance: HYDROCORTISONE ACETATE
     Indication: Colitis ulcerative
  473. CORTIFOAM [Suspect]
     Active Substance: HYDROCORTISONE ACETATE
     Indication: Deep vein thrombosis
  474. CORTIFOAM [Suspect]
     Active Substance: HYDROCORTISONE ACETATE
     Dosage: 1 DOSAGE FORM, QD
     Dates: start: 201707
  475. CORTIFOAM [Suspect]
     Active Substance: HYDROCORTISONE ACETATE
  476. CORTIFOAM [Suspect]
     Active Substance: HYDROCORTISONE ACETATE
     Dosage: 1 DOSAGE FORM, QD
     Dates: start: 201707
  477. CORTIFOAM [Suspect]
     Active Substance: HYDROCORTISONE ACETATE
  478. CORTIFOAM [Suspect]
     Active Substance: HYDROCORTISONE ACETATE
  479. HYDROCORTISONE ACETATE [Suspect]
     Active Substance: HYDROCORTISONE ACETATE
     Indication: Product used for unknown indication
  480. ALBENDAZOLE [Suspect]
     Active Substance: ALBENDAZOLE
     Indication: Colitis ulcerative
  481. ALBENDAZOLE [Suspect]
     Active Substance: ALBENDAZOLE
     Indication: Deep vein thrombosis
  482. ALBENDAZOLE [Suspect]
     Active Substance: ALBENDAZOLE
     Indication: Crohn^s disease
  483. ENTYVIO [Suspect]
     Active Substance: VEDOLIZUMAB
     Indication: Colitis ulcerative
  484. ENTYVIO [Suspect]
     Active Substance: VEDOLIZUMAB
     Indication: Deep vein thrombosis
  485. ENTYVIO [Suspect]
     Active Substance: VEDOLIZUMAB
  486. ENTYVIO [Suspect]
     Active Substance: VEDOLIZUMAB
  487. ENTYVIO [Suspect]
     Active Substance: VEDOLIZUMAB
  488. ENTYVIO [Suspect]
     Active Substance: VEDOLIZUMAB
  489. ENTYVIO [Suspect]
     Active Substance: VEDOLIZUMAB
     Dosage: 8 DOSAGE FORM
     Dates: start: 201807
  490. ENTYVIO [Suspect]
     Active Substance: VEDOLIZUMAB
  491. ENTYVIO [Suspect]
     Active Substance: VEDOLIZUMAB
  492. ENTYVIO [Suspect]
     Active Substance: VEDOLIZUMAB
  493. ENTYVIO [Suspect]
     Active Substance: VEDOLIZUMAB
     Dosage: 1 DOSAGE FORM, QD
     Dates: end: 2017
  494. ENTYVIO [Suspect]
     Active Substance: VEDOLIZUMAB
  495. ENTYVIO [Suspect]
     Active Substance: VEDOLIZUMAB
  496. ENTYVIO [Suspect]
     Active Substance: VEDOLIZUMAB
  497. ENTYVIO [Suspect]
     Active Substance: VEDOLIZUMAB
     Dosage: 1 DOSAGE FORM, QD (1 EVERY 1 DAYS)
  498. ENTYVIO [Suspect]
     Active Substance: VEDOLIZUMAB
     Dosage: 8 DOSAGE FORM, QW (ONCE IN A WEEK)
  499. ENTYVIO [Suspect]
     Active Substance: VEDOLIZUMAB
     Dosage: 8 DOSAGE FORM
     Dates: start: 201807
  500. ENTYVIO [Suspect]
     Active Substance: VEDOLIZUMAB
     Dosage: UNK, QD (1 EVERY 1 DAY)
  501. ENTYVIO [Suspect]
     Active Substance: VEDOLIZUMAB
     Indication: Colitis ulcerative
  502. ENTYVIO [Suspect]
     Active Substance: VEDOLIZUMAB
     Indication: Deep vein thrombosis
  503. ENTYVIO [Suspect]
     Active Substance: VEDOLIZUMAB
  504. ENTYVIO [Suspect]
     Active Substance: VEDOLIZUMAB
  505. ENTYVIO [Suspect]
     Active Substance: VEDOLIZUMAB
  506. ENTYVIO [Suspect]
     Active Substance: VEDOLIZUMAB
  507. ENTYVIO [Suspect]
     Active Substance: VEDOLIZUMAB
     Dosage: UNK, QD (1 EVERY1 DAYS)
  508. ENTYVIO [Suspect]
     Active Substance: VEDOLIZUMAB
  509. ENTYVIO [Suspect]
     Active Substance: VEDOLIZUMAB
  510. ENTYVIO [Suspect]
     Active Substance: VEDOLIZUMAB
  511. ENTYVIO [Suspect]
     Active Substance: VEDOLIZUMAB
     Dosage: 1 DOSAGE FORM, QD (1 EVERY 1 DAYS)
  512. ENTYVIO [Suspect]
     Active Substance: VEDOLIZUMAB
  513. ENTYVIO [Suspect]
     Active Substance: VEDOLIZUMAB
  514. ENTYVIO [Suspect]
     Active Substance: VEDOLIZUMAB
  515. ENTYVIO [Suspect]
     Active Substance: VEDOLIZUMAB
  516. PREDNISONE [Suspect]
     Active Substance: PREDNISONE
     Indication: Colitis ulcerative
  517. PREDNISONE [Suspect]
     Active Substance: PREDNISONE
  518. PREDNISONE [Suspect]
     Active Substance: PREDNISONE
  519. PREDNISONE [Suspect]
     Active Substance: PREDNISONE
  520. PREDNISONE [Suspect]
     Active Substance: PREDNISONE
  521. PREDNISONE [Suspect]
     Active Substance: PREDNISONE
  522. PREDNISONE [Suspect]
     Active Substance: PREDNISONE
  523. PREDNISONE [Suspect]
     Active Substance: PREDNISONE
  524. PREDNISONE [Suspect]
     Active Substance: PREDNISONE
  525. PREDNISONE [Suspect]
     Active Substance: PREDNISONE
     Dosage: 50 MILLIGRAM, QD (1 EVERY 1 DAYS)
  526. PREDNISONE [Suspect]
     Active Substance: PREDNISONE
     Dosage: 40 MILLIGRAM, QD (1 EVERY 1 DAYS
  527. PREDNISONE [Suspect]
     Active Substance: PREDNISONE
  528. PREDNISONE [Suspect]
     Active Substance: PREDNISONE
     Dosage: 50 MILLIGRAM, QD (1 EVERY 1 DAYS)
     Dates: start: 2009, end: 2009
  529. PREDNISONE [Suspect]
     Active Substance: PREDNISONE
  530. INFLIXIMAB [Suspect]
     Active Substance: INFLIXIMAB
     Indication: Colitis ulcerative
  531. INFLIXIMAB [Suspect]
     Active Substance: INFLIXIMAB
     Indication: Crohn^s disease
  532. INFLIXIMAB [Suspect]
     Active Substance: INFLIXIMAB
  533. INFLIXIMAB [Suspect]
     Active Substance: INFLIXIMAB
     Dates: start: 20170101, end: 20170901
  534. INFLIXIMAB [Suspect]
     Active Substance: INFLIXIMAB
     Dates: start: 20170101, end: 20170901
  535. INFLIXIMAB [Suspect]
     Active Substance: INFLIXIMAB
  536. INFLIXIMAB [Suspect]
     Active Substance: INFLIXIMAB
  537. INFLIXIMAB [Suspect]
     Active Substance: INFLIXIMAB
  538. INFLIXIMAB [Suspect]
     Active Substance: INFLIXIMAB
  539. INFLIXIMAB [Suspect]
     Active Substance: INFLIXIMAB
     Dates: start: 20170101, end: 20170901
  540. INFLIXIMAB [Suspect]
     Active Substance: INFLIXIMAB
  541. INFLIXIMAB [Suspect]
     Active Substance: INFLIXIMAB
  542. INFLIXIMAB [Suspect]
     Active Substance: INFLIXIMAB
  543. INFLIXIMAB [Suspect]
     Active Substance: INFLIXIMAB
  544. INFLIXIMAB [Suspect]
     Active Substance: INFLIXIMAB
     Dates: start: 20170101, end: 20170901
  545. INFLIXIMAB [Suspect]
     Active Substance: INFLIXIMAB
  546. INFLIXIMAB [Suspect]
     Active Substance: INFLIXIMAB
  547. INFLIXIMAB [Suspect]
     Active Substance: INFLIXIMAB
  548. INFLIXIMAB [Suspect]
     Active Substance: INFLIXIMAB
  549. INFLIXIMAB [Suspect]
     Active Substance: INFLIXIMAB
  550. INFLIXIMAB [Suspect]
     Active Substance: INFLIXIMAB
  551. ESCITALOPRAM [Suspect]
     Active Substance: ESCITALOPRAM OXALATE
     Indication: Product used for unknown indication
  552. ESCITALOPRAM [Suspect]
     Active Substance: ESCITALOPRAM OXALATE
     Dosage: 10 MILLIGRAM, QD (1 EVERY 1 DAY)
  553. ESCITALOPRAM [Suspect]
     Active Substance: ESCITALOPRAM OXALATE
  554. HUMIRA [Suspect]
     Active Substance: ADALIMUMAB
     Indication: Deep vein thrombosis
  555. HUMIRA [Suspect]
     Active Substance: ADALIMUMAB
     Indication: Crohn^s disease
  556. AZD-1222 [Suspect]
     Active Substance: AZD-1222
     Indication: COVID-19 immunisation
  557. AZD-1222 [Suspect]
     Active Substance: AZD-1222
  558. AZD-1222 [Suspect]
     Active Substance: AZD-1222
  559. VITAMIN D3 [Suspect]
     Active Substance: CHOLECALCIFEROL
     Indication: Product used for unknown indication
  560. AZD-1222 [Suspect]
     Active Substance: AZD-1222
     Indication: COVID-19 immunisation
  561. HUMIRA [Suspect]
     Active Substance: ADALIMUMAB
     Indication: Deep vein thrombosis
  562. HUMIRA [Suspect]
     Active Substance: ADALIMUMAB
     Indication: Crohn^s disease
  563. HUMIRA [Suspect]
     Active Substance: ADALIMUMAB
  564. HUMIRA [Suspect]
     Active Substance: ADALIMUMAB
     Dosage: 8 DOSAGE FORM, BIMONTHLY (1 DOSE PER 8W)
  565. HUMIRA [Suspect]
     Active Substance: ADALIMUMAB
  566. HUMIRA [Suspect]
     Active Substance: ADALIMUMAB
  567. HUMIRA [Suspect]
     Active Substance: ADALIMUMAB
  568. HUMIRA [Suspect]
     Active Substance: ADALIMUMAB
  569. HUMIRA [Suspect]
     Active Substance: ADALIMUMAB
  570. CORTISONE ACETATE [Suspect]
     Active Substance: CORTISONE ACETATE
     Indication: Product used for unknown indication
  571. PARA-AMINOSALICYLIC ACID [Suspect]
     Active Substance: AMINOSALICYLIC ACID
     Indication: Colitis ulcerative
  572. PARA-AMINOSALICYLIC ACID [Suspect]
     Active Substance: AMINOSALICYLIC ACID
     Indication: Deep vein thrombosis
  573. VEDOLIZUMAB [Suspect]
     Active Substance: VEDOLIZUMAB
     Indication: Colitis ulcerative
  574. VEDOLIZUMAB [Suspect]
     Active Substance: VEDOLIZUMAB
     Indication: Deep vein thrombosis
     Dosage: 1 DOSAGE FORM, QD (1 EVERY 1 DAYS)
  575. VEDOLIZUMAB [Suspect]
     Active Substance: VEDOLIZUMAB
  576. VEDOLIZUMAB [Suspect]
     Active Substance: VEDOLIZUMAB
  577. VEDOLIZUMAB [Suspect]
     Active Substance: VEDOLIZUMAB
     Dosage: 1 DOSAGE FORM, QD
     Dates: start: 201807
  578. VEDOLIZUMAB [Suspect]
     Active Substance: VEDOLIZUMAB
  579. VEDOLIZUMAB [Suspect]
     Active Substance: VEDOLIZUMAB
  580. VEDOLIZUMAB [Suspect]
     Active Substance: VEDOLIZUMAB
  581. VEDOLIZUMAB [Suspect]
     Active Substance: VEDOLIZUMAB
  582. HYDROCORTISONE [Suspect]
     Active Substance: HYDROCORTISONE
     Indication: Colitis ulcerative
  583. HYDROCORTISONE [Suspect]
     Active Substance: HYDROCORTISONE
     Dosage: 8 DOSAGE FORM, QD (1 EVERY 1 DAYS)
  584. HYDROCORTISONE [Suspect]
     Active Substance: HYDROCORTISONE
  585. HYDROCORTISONE [Suspect]
     Active Substance: HYDROCORTISONE
     Dosage: 1 DOSAGE FORM, QD (1 EVERY 1 DAYS)
  586. VEDOLIZUMAB [Suspect]
     Active Substance: VEDOLIZUMAB
     Indication: Deep vein thrombosis
  587. VEDOLIZUMAB [Suspect]
     Active Substance: VEDOLIZUMAB
     Indication: Colitis ulcerative
  588. VEDOLIZUMAB [Suspect]
     Active Substance: VEDOLIZUMAB
  589. OXYCODONE HYDROCHLORIDE [Suspect]
     Active Substance: OXYCODONE HYDROCHLORIDE
     Indication: Product used for unknown indication
     Dosage: 5 MILLIGRAM, BID (10 MILLIGRAM DAILY)
  590. OXYCODONE HYDROCHLORIDE [Suspect]
     Active Substance: OXYCODONE HYDROCHLORIDE
  591. OXYCODONE HYDROCHLORIDE [Suspect]
     Active Substance: OXYCODONE HYDROCHLORIDE
     Dosage: 10 MILLIGRAM, QD (1 EVERY 1 DAYS)
  592. MESALAMINE [Suspect]
     Active Substance: MESALAMINE
     Indication: Colitis ulcerative
  593. MESALAMINE [Suspect]
     Active Substance: MESALAMINE
     Dates: start: 20170101, end: 20170901
  594. MESALAMINE [Suspect]
     Active Substance: MESALAMINE
  595. MESALAMINE [Suspect]
     Active Substance: MESALAMINE
  596. MESALAMINE [Suspect]
     Active Substance: MESALAMINE
     Dosage: 2.4 GRAM, QD, 0.8 G, 3 TABLETS TWO TIMES A DAY (4.8 G DAILY)
     Dates: start: 20161001
  597. MESALAMINE [Suspect]
     Active Substance: MESALAMINE
     Dosage: 3 DOSAGE FORM, QD
     Dates: start: 201610
  598. MESALAMINE [Suspect]
     Active Substance: MESALAMINE
  599. MESALAMINE [Suspect]
     Active Substance: MESALAMINE
     Dates: start: 20160101, end: 20161001
  600. MESALAMINE [Suspect]
     Active Substance: MESALAMINE
     Dates: start: 20170101, end: 20170901
  601. MESALAMINE [Suspect]
     Active Substance: MESALAMINE
  602. MESALAMINE [Suspect]
     Active Substance: MESALAMINE
     Dosage: 4.8 GRAM, QD
     Dates: start: 20161001
  603. MESALAMINE [Suspect]
     Active Substance: MESALAMINE
     Dosage: 3 DOSAGE FORM, BID
     Dates: start: 2016
  604. MESALAMINE [Suspect]
     Active Substance: MESALAMINE
     Dates: start: 20170101, end: 20171001
  605. MESALAMINE [Suspect]
     Active Substance: MESALAMINE
  606. MESALAMINE [Suspect]
     Active Substance: MESALAMINE
  607. MESALAMINE [Suspect]
     Active Substance: MESALAMINE
     Dosage: 50 MILLIGRAM, QD
     Dates: start: 20160101, end: 20161001
  608. MESALAMINE [Suspect]
     Active Substance: MESALAMINE
     Dates: start: 20170101, end: 20170901
  609. MESALAMINE [Suspect]
     Active Substance: MESALAMINE
     Dosage: 4.8 MILLIGRAM, QD
     Dates: start: 20161001
  610. MESALAMINE [Suspect]
     Active Substance: MESALAMINE
  611. MESALAMINE [Suspect]
     Active Substance: MESALAMINE
     Dosage: 4.8 MILLIGRAM, QD
     Dates: start: 20170101
  612. MESALAMINE [Suspect]
     Active Substance: MESALAMINE
  613. MESALAMINE [Suspect]
     Active Substance: MESALAMINE
     Dosage: 4.8 GRAM, QD
     Dates: start: 20160101, end: 201709
  614. MESALAMINE [Suspect]
     Active Substance: MESALAMINE
     Dates: start: 20160101, end: 20170901
  615. MESALAMINE [Suspect]
     Active Substance: MESALAMINE
     Dosage: 50 MILLIGRAM, QD
     Dates: start: 20160101, end: 20161001
  616. HYDROCORTISONE SODIUM SUCCINATE [Suspect]
     Active Substance: HYDROCORTISONE SODIUM SUCCINATE
     Indication: Colitis ulcerative
     Dosage: 1 DOSAGE FORM, QD
  617. HYDROCORTISONE [Suspect]
     Active Substance: HYDROCORTISONE
     Indication: Colitis ulcerative
     Dosage: 1 DOSAGE FORM, QD (1 DOSE PER 1D)
  618. HYDROCORTISONE [Suspect]
     Active Substance: HYDROCORTISONE
     Dosage: 1 DOSAGE FORM, QD (1 DOSE PER 1D)
  619. HYDROCORTISONE [Suspect]
     Active Substance: HYDROCORTISONE
     Dosage: 8 DOSAGE FORM, QW (EVERY 1 WEEK)
     Dates: start: 201707
  620. HYDROCORTISONE [Suspect]
     Active Substance: HYDROCORTISONE
     Dosage: 8 DOSAGE FORM, QW (EVERY 1 WEEK)
  621. HYDROCORTISONE [Suspect]
     Active Substance: HYDROCORTISONE
     Dosage: 1 DOSAGE FORM, BIMONTHLY (EVERY 8 WEEK)
  622. HYDROCORTISONE [Suspect]
     Active Substance: HYDROCORTISONE
     Dosage: 8 DOSAGE FORM, QD (1 EVERY 1 DAY)
  623. HYDROCORTISONE [Suspect]
     Active Substance: HYDROCORTISONE
     Dosage: 1 DOSAGE FORM, 6XW (1 DOSE PER 6W)
  624. HYDROCORTISONE [Suspect]
     Active Substance: HYDROCORTISONE
     Dosage: 8 MILLIGRAM, QW (1 DOSE PER 1W)
  625. HYDROCORTISONE [Suspect]
     Active Substance: HYDROCORTISONE
     Dosage: 6 MILLIGRAM, QW (1 DOSE PER 1W)
  626. HYDROCORTISONE [Suspect]
     Active Substance: HYDROCORTISONE
     Dosage: UNK, BIMONTHLY (1 EVERY 8 WEEKS)
  627. HYDROCORTISONE [Suspect]
     Active Substance: HYDROCORTISONE
  628. HYDROCORTISONE [Suspect]
     Active Substance: HYDROCORTISONE
     Dosage: 8 DOSAGE FORM, BIMONTHLY ( 1 EVERY 8 WEEKS)
  629. HYDROCORTISONE [Suspect]
     Active Substance: HYDROCORTISONE
     Dosage: 1 DOSAGE FORM, BIMONTHLY (1 EVERY 8 WEEK)
  630. HYDROCORTISONE [Suspect]
     Active Substance: HYDROCORTISONE
     Dosage: 8 DOSAGE FORM, BIMONTHLY (1 EVERY 8 MONTHS)
     Dates: start: 201707
  631. SULFASALAZINE [Suspect]
     Active Substance: SULFASALAZINE
     Indication: Colitis ulcerative
  632. SULFASALAZINE [Suspect]
     Active Substance: SULFASALAZINE
     Indication: Arthritis
     Dosage: 3 MILLIGRAM, QD (1 EVERY 1 DAYS)
  633. SULFASALAZINE [Suspect]
     Active Substance: SULFASALAZINE
     Indication: Colitis
     Dates: start: 20091001, end: 20161001
  634. SULFASALAZINE [Suspect]
     Active Substance: SULFASALAZINE
     Dates: start: 20090101, end: 20160101
  635. SULFASALAZINE [Suspect]
     Active Substance: SULFASALAZINE
     Dates: start: 20160101, end: 20160101
  636. SULFASALAZINE [Suspect]
     Active Substance: SULFASALAZINE
     Dosage: 5 MILLIGRAM, QD (1 EVERY 1 DAY)
  637. SULFASALAZINE [Suspect]
     Active Substance: SULFASALAZINE
  638. SULFASALAZINE [Suspect]
     Active Substance: SULFASALAZINE
  639. SULFASALAZINE [Suspect]
     Active Substance: SULFASALAZINE
  640. SULFASALAZINE [Suspect]
     Active Substance: SULFASALAZINE
  641. SULFASALAZINE [Suspect]
     Active Substance: SULFASALAZINE
  642. SULFASALAZINE [Suspect]
     Active Substance: SULFASALAZINE
  643. SULFASALAZINE [Suspect]
     Active Substance: SULFASALAZINE
     Dosage: 5 MILLIGRAM, QD (1 EVERY 1 DAYS)
  644. SULFASALAZINE [Suspect]
     Active Substance: SULFASALAZINE
     Dosage: UNK, QD (1 EVERY1 DAYS)
  645. SULFASALAZINE [Suspect]
     Active Substance: SULFASALAZINE
     Dates: start: 2009, end: 2016
  646. SULFASALAZINE [Suspect]
     Active Substance: SULFASALAZINE
     Dosage: 3 MILLIGRAM, BID (2 EVERY 1 DAY)
  647. SULFASALAZINE [Suspect]
     Active Substance: SULFASALAZINE
  648. WARFARIN SODIUM [Suspect]
     Active Substance: WARFARIN SODIUM
     Indication: Deep vein thrombosis
     Dosage: 1 DOSAGE FORM, QD (1 EVERY 1 DAYS)
     Dates: start: 201707
  649. WARFARIN SODIUM [Suspect]
     Active Substance: WARFARIN SODIUM
     Indication: Colitis ulcerative
  650. WARFARIN SODIUM [Suspect]
     Active Substance: WARFARIN SODIUM
     Indication: Crohn^s disease
  651. WARFARIN SODIUM [Suspect]
     Active Substance: WARFARIN SODIUM
  652. WARFARIN SODIUM [Suspect]
     Active Substance: WARFARIN SODIUM
     Dosage: 1 DOSAGE FORM, QD (1 EVERY 1 DAYS)
     Dates: start: 2009, end: 2009
  653. WARFARIN SODIUM [Suspect]
     Active Substance: WARFARIN SODIUM
  654. WARFARIN SODIUM [Suspect]
     Active Substance: WARFARIN SODIUM
  655. AMINOSALICYLIC ACID [Suspect]
     Active Substance: AMINOSALICYLIC ACID
     Indication: Product used for unknown indication
  656. AMINOSALICYLIC ACID [Suspect]
     Active Substance: AMINOSALICYLIC ACID
  657. REMICADE [Suspect]
     Active Substance: INFLIXIMAB
     Indication: Crohn^s disease
     Dates: start: 20170101, end: 20170901
  658. REMICADE [Suspect]
     Active Substance: INFLIXIMAB
     Indication: Colitis ulcerative
  659. REMICADE [Suspect]
     Active Substance: INFLIXIMAB
     Dates: start: 20170101, end: 20170901
  660. REMICADE [Suspect]
     Active Substance: INFLIXIMAB
  661. REMICADE [Suspect]
     Active Substance: INFLIXIMAB
  662. REMICADE [Suspect]
     Active Substance: INFLIXIMAB
  663. REMICADE [Suspect]
     Active Substance: INFLIXIMAB
  664. CANDESARTAN [Suspect]
     Active Substance: CANDESARTAN
     Indication: Colitis ulcerative
  665. VYVANSE [Suspect]
     Active Substance: LISDEXAMFETAMINE DIMESYLATE
     Indication: Attention deficit hyperactivity disorder
  666. VYVANSE [Suspect]
     Active Substance: LISDEXAMFETAMINE DIMESYLATE
  667. WARFARIN SODIUM [Suspect]
     Active Substance: WARFARIN SODIUM
     Indication: Deep vein thrombosis
     Dosage: 1 DOSAGE FORM, QD (1 EVERY 1 DAYS)
  668. WARFARIN SODIUM [Suspect]
     Active Substance: WARFARIN SODIUM
     Indication: Colitis ulcerative
     Dosage: 32 DOSAGE FORM, QD (8 DOSAGE FORM 1 EVERY 8 WEEKS)
  669. WARFARIN SODIUM [Suspect]
     Active Substance: WARFARIN SODIUM
  670. WARFARIN SODIUM [Suspect]
     Active Substance: WARFARIN SODIUM
     Dosage: 8 DOSAGE FORM, QW
  671. WARFARIN SODIUM [Suspect]
     Active Substance: WARFARIN SODIUM
  672. WARFARIN SODIUM [Suspect]
     Active Substance: WARFARIN SODIUM
  673. WARFARIN SODIUM [Suspect]
     Active Substance: WARFARIN SODIUM
  674. WARFARIN SODIUM [Suspect]
     Active Substance: WARFARIN SODIUM
     Dosage: 1 DOSAGE FORM QD (1 EVERY 1 DAY)
  675. WARFARIN SODIUM [Suspect]
     Active Substance: WARFARIN SODIUM
  676. WARFARIN SODIUM [Suspect]
     Active Substance: WARFARIN SODIUM
     Dosage: 1 DOSAGE FORM, QD (1 EVERY 1 DAY)
  677. CORTIFOAM [Suspect]
     Active Substance: HYDROCORTISONE ACETATE
     Indication: Deep vein thrombosis
     Dosage: 1 DOSAGE FORM, QD (1 EVERY 1 DAYS)
     Dates: start: 201707
  678. CORTIFOAM [Suspect]
     Active Substance: HYDROCORTISONE ACETATE
     Indication: Colitis ulcerative
  679. CORTIFOAM [Suspect]
     Active Substance: HYDROCORTISONE ACETATE
  680. CORTIFOAM [Suspect]
     Active Substance: HYDROCORTISONE ACETATE
  681. CORTIFOAM [Suspect]
     Active Substance: HYDROCORTISONE ACETATE
  682. CORTIFOAM [Suspect]
     Active Substance: HYDROCORTISONE ACETATE
  683. CORTIFOAM [Suspect]
     Active Substance: HYDROCORTISONE ACETATE
     Dosage: 1 DOSAGE FORM, QD (1 EVERY 1 DAYS)
  684. CORTIFOAM [Suspect]
     Active Substance: HYDROCORTISONE ACETATE
     Dosage: UNK, BIMONTHLY  (1 DOSE PER 8W)
  685. CORTIFOAM [Suspect]
     Active Substance: HYDROCORTISONE ACETATE
     Dosage: 4 DOSAGE FORM, QD (1 EVER 1 DAY)
  686. CORTIFOAM [Suspect]
     Active Substance: HYDROCORTISONE ACETATE
  687. CORTIFOAM [Suspect]
     Active Substance: HYDROCORTISONE ACETATE
  688. CORTIFOAM [Suspect]
     Active Substance: HYDROCORTISONE ACETATE
  689. ADALIMUMAB [Suspect]
     Active Substance: ADALIMUMAB
     Indication: Crohn^s disease
  690. ADALIMUMAB [Suspect]
     Active Substance: ADALIMUMAB
     Indication: Colitis ulcerative
  691. ADALIMUMAB [Suspect]
     Active Substance: ADALIMUMAB
     Indication: Deep vein thrombosis
  692. VITAMIN D3 [Suspect]
     Active Substance: CHOLECALCIFEROL
     Indication: Product used for unknown indication
  693. VITAMIN D3 [Suspect]
     Active Substance: CHOLECALCIFEROL
  694. VITAMIN D3 [Suspect]
     Active Substance: CHOLECALCIFEROL
     Dosage: 100 MILLIGRAM, QD (1 DOSE PER DAY)
  695. CHOLECALCIFEROL [Suspect]
     Active Substance: CHOLECALCIFEROL
     Indication: Product used for unknown indication
  696. CHOLECALCIFEROL [Suspect]
     Active Substance: CHOLECALCIFEROL
  697. TOZINAMERAN [Suspect]
     Active Substance: TOZINAMERAN
     Indication: Product used for unknown indication
     Dates: start: 20220322, end: 20220322
  698. TOZINAMERAN [Suspect]
     Active Substance: TOZINAMERAN
  699. TOZINAMERAN [Suspect]
     Active Substance: TOZINAMERAN
  700. ADALIMUMAB [Suspect]
     Active Substance: ADALIMUMAB
     Indication: Crohn^s disease
  701. ADALIMUMAB [Suspect]
     Active Substance: ADALIMUMAB
     Indication: Colitis ulcerative
  702. ADALIMUMAB [Suspect]
     Active Substance: ADALIMUMAB
     Indication: Deep vein thrombosis
  703. ADALIMUMAB [Suspect]
     Active Substance: ADALIMUMAB
  704. DESOXIMETASONE [Suspect]
     Active Substance: DESOXIMETASONE
     Indication: Colitis ulcerative
     Dosage: 1 DOSAGE FORM (1 EVERY 1 DAYS)
  705. DESOXIMETASONE [Suspect]
     Active Substance: DESOXIMETASONE
     Indication: Crohn^s disease
  706. DESOXIMETASONE [Suspect]
     Active Substance: DESOXIMETASONE
     Dosage: 3 DOSAGE FORM, BID (2 EVERY 1 DAYS)
  707. DESOXIMETASONE [Suspect]
     Active Substance: DESOXIMETASONE
     Dosage: 8 DOSAGE FORM, BIMONTHLY  (1 EVERY 8 WEEKS)
  708. DESOXIMETASONE [Suspect]
     Active Substance: DESOXIMETASONE
  709. DESOXIMETASONE [Suspect]
     Active Substance: DESOXIMETASONE
  710. DESOXIMETASONE [Suspect]
     Active Substance: DESOXIMETASONE
     Dosage: 1 DOSAGE FORM, QD (1 EVERY 1 DAYS)
  711. DESOXIMETASONE [Suspect]
     Active Substance: DESOXIMETASONE
     Dosage: 8 DOSAGE FORM, QD (1 EVERY 1 DAY)
  712. DESOXIMETASONE [Suspect]
     Active Substance: DESOXIMETASONE
     Dosage: 3 DOSAGE FORM, BID (2 EVERY 1 DAYS)
  713. DESOXIMETASONE [Suspect]
     Active Substance: DESOXIMETASONE
  714. DESOXIMETASONE [Suspect]
     Active Substance: DESOXIMETASONE
     Dosage: 8 DOSAGE FORM, QD (1 EVERY 1 DAY)
  715. DESOXIMETASONE [Suspect]
     Active Substance: DESOXIMETASONE
  716. DESOXIMETASONE [Suspect]
     Active Substance: DESOXIMETASONE
  717. DESOXIMETASONE [Suspect]
     Active Substance: DESOXIMETASONE
  718. DESOXIMETASONE [Suspect]
     Active Substance: DESOXIMETASONE
     Dosage: 3 DOSAGE FORM, Q5D (1 EVERY 5 DAYS)
  719. DESOXIMETASONE [Suspect]
     Active Substance: DESOXIMETASONE
     Dosage: 8 DOSAGE FORM, BIMONTHLY (1 EVERY 8 WEEKS)
  720. DESOXIMETASONE [Suspect]
     Active Substance: DESOXIMETASONE
     Dosage: UNK, BIMONTHLY (1 EVERY 8 WEEKS)
  721. DESOXIMETASONE [Suspect]
     Active Substance: DESOXIMETASONE
     Dosage: UNK, 6XW (1 EVERY 6 WEEKS)
  722. DESOXIMETASONE [Suspect]
     Active Substance: DESOXIMETASONE
     Dosage: UNK, QD (1 EVERY 1 DAY)
  723. DESOXIMETASONE [Suspect]
     Active Substance: DESOXIMETASONE
     Dosage: UNK, BIMONTHLY (1 EVERY 8 WEEKS)
  724. DESOXIMETASONE [Suspect]
     Active Substance: DESOXIMETASONE
  725. DESOXIMETASONE [Suspect]
     Active Substance: DESOXIMETASONE
     Dosage: 1 DOSAGE FORM, QD (1 EVERY 1 DAYS)
  726. COMIRNATY (TOZINAMERAN) [Suspect]
     Active Substance: TOZINAMERAN
     Indication: Product used for unknown indication
  727. COMIRNATY (TOZINAMERAN) [Suspect]
     Active Substance: TOZINAMERAN
  728. DAPAGLIFLOZIN [Suspect]
     Active Substance: DAPAGLIFLOZIN
     Indication: Ill-defined disorder
  729. DAPAGLIFLOZIN [Suspect]
     Active Substance: DAPAGLIFLOZIN
     Indication: Cardiac failure chronic
  730. DAPAGLIFLOZIN [Suspect]
     Active Substance: DAPAGLIFLOZIN
  731. AZD-1222 [Suspect]
     Active Substance: AZD-1222
     Indication: COVID-19 immunisation
     Dates: start: 20210423, end: 20210423
  732. AZD-1222 [Suspect]
     Active Substance: AZD-1222
  733. AZD-1222 [Suspect]
     Active Substance: AZD-1222
     Dates: start: 20210416, end: 20210416
  734. AZD-1222 [Suspect]
     Active Substance: AZD-1222
     Dates: start: 20210508, end: 20210508
  735. AZD-1222 [Suspect]
     Active Substance: AZD-1222
     Dates: start: 20210713, end: 20210713
  736. AZD-1222 [Suspect]
     Active Substance: AZD-1222
     Dates: start: 20210318, end: 20210318
  737. AZD-1222 [Suspect]
     Active Substance: AZD-1222
     Dates: start: 20210130, end: 20210130
  738. AZD-1222 [Suspect]
     Active Substance: AZD-1222
     Dates: start: 20210319, end: 20210319
  739. AZD-1222 [Suspect]
     Active Substance: AZD-1222
     Dates: start: 20210204, end: 20210204
  740. AZD-1222 [Suspect]
     Active Substance: AZD-1222
     Dates: start: 20210215, end: 20210215
  741. AZD-1222 [Suspect]
     Active Substance: AZD-1222
     Dates: start: 20210521, end: 20210521
  742. AZD-1222 [Suspect]
     Active Substance: AZD-1222
  743. AZD-1222 [Suspect]
     Active Substance: AZD-1222
  744. AZD-1222 [Suspect]
     Active Substance: AZD-1222
  745. AZD-1222 [Suspect]
     Active Substance: AZD-1222
  746. AZD-1222 [Suspect]
     Active Substance: AZD-1222
  747. AZD-1222 [Suspect]
     Active Substance: AZD-1222
     Dates: start: 20210204, end: 20210204
  748. AZD-1222 [Suspect]
     Active Substance: AZD-1222
     Dates: start: 20210423, end: 20210423
  749. AZD-1222 [Suspect]
     Active Substance: AZD-1222
     Dates: start: 20210204, end: 20210204
  750. MEBEVERINE HYDROCHLORIDE [Suspect]
     Active Substance: MEBEVERINE HYDROCHLORIDE
     Indication: Product used for unknown indication
  751. MEBEVERINE HYDROCHLORIDE [Suspect]
     Active Substance: MEBEVERINE HYDROCHLORIDE
  752. MEBEVERINE HYDROCHLORIDE [Suspect]
     Active Substance: MEBEVERINE HYDROCHLORIDE
  753. MEBEVERINE HYDROCHLORIDE [Suspect]
     Active Substance: MEBEVERINE HYDROCHLORIDE
     Dosage: 200 MILLIGRAM, BID (2 DOSE PER 1DAY)
  754. MEBEVERINE HYDROCHLORIDE [Suspect]
     Active Substance: MEBEVERINE HYDROCHLORIDE
     Dosage: 200 MILLIGRAM, BID (2 DOSE PER 1DAY)
  755. OMEPRAZOLE [Suspect]
     Active Substance: OMEPRAZOLE
     Indication: Gastritis
  756. OMEPRAZOLE [Suspect]
     Active Substance: OMEPRAZOLE
  757. OMEPRAZOLE [Suspect]
     Active Substance: OMEPRAZOLE
     Dosage: 40 MILLIGRAM, QD (1 EVERY 1 DAYS)
  758. MEBEVERINE [Suspect]
     Active Substance: MEBEVERINE
     Indication: Product used for unknown indication
  759. ESOMEPRAZOLE [Suspect]
     Active Substance: ESOMEPRAZOLE
     Indication: Gastritis
  760. LISDEXAMFETAMINE DIMESYLATE [Suspect]
     Active Substance: LISDEXAMFETAMINE DIMESYLATE
     Indication: Product used for unknown indication
  761. PANADOL [Suspect]
     Active Substance: ACETAMINOPHEN
     Indication: Ill-defined disorder
     Dosage: 500 MILLIGRAM, QID (4 DOSE PER 1 D)
  762. FUROSEMIDE [Suspect]
     Active Substance: FUROSEMIDE
     Indication: Product used for unknown indication
  763. FUROSEMIDE [Suspect]
     Active Substance: FUROSEMIDE
     Dosage: 20 MILLIGRAM, QD (1 DOSE PER DAY)
  764. HYDROCORTISONE ACETATE [Suspect]
     Active Substance: HYDROCORTISONE ACETATE
     Indication: Deep vein thrombosis
  765. HYDROCORTISONE ACETATE [Suspect]
     Active Substance: HYDROCORTISONE ACETATE
     Indication: Colitis ulcerative
  766. HYDROCORTISONE ACETATE [Suspect]
     Active Substance: HYDROCORTISONE ACETATE
     Dosage: 32 DOSAGE FORM, QD (1 EVERY 1 DAY)
  767. HYDROCORTISONE ACETATE [Suspect]
     Active Substance: HYDROCORTISONE ACETATE
     Dosage: 8 DOSAGE FORM, BIMONTHLY (1 EVERY 8 WEEKS)
  768. HYDROCORTISONE ACETATE [Suspect]
     Active Substance: HYDROCORTISONE ACETATE
     Dosage: 1 DOSAGE FORM, QD (1 EVERY 1 DAY)
  769. HYDROCORTISONE ACETATE [Suspect]
     Active Substance: HYDROCORTISONE ACETATE
  770. HYDROCORTISONE ACETATE [Suspect]
     Active Substance: HYDROCORTISONE ACETATE
  771. HYDROCORTISONE ACETATE [Suspect]
     Active Substance: HYDROCORTISONE ACETATE
     Dosage: 8 DOSAGE FORM, BIMONTHLY (1 EVERY 8 WEEKS)
  772. HYDROCORTISONE ACETATE [Suspect]
     Active Substance: HYDROCORTISONE ACETATE
     Dosage: 1 DOSAGE FORM, QD (1 EVERY 1 DAY)
  773. HUMIRA [Suspect]
     Active Substance: ADALIMUMAB
     Indication: Deep vein thrombosis
  774. HUMIRA [Suspect]
     Active Substance: ADALIMUMAB
     Indication: Crohn^s disease
  775. WARFARIN SODIUM [Suspect]
     Active Substance: WARFARIN SODIUM
     Indication: Deep vein thrombosis
  776. HYDROCORTISONE ACETATE [Suspect]
     Active Substance: HYDROCORTISONE ACETATE
     Indication: Colitis ulcerative
  777. PREDNISONE [Suspect]
     Active Substance: PREDNISONE
     Indication: Colitis ulcerative
  778. PREDNISONE [Suspect]
     Active Substance: PREDNISONE
  779. PREDNISONE [Suspect]
     Active Substance: PREDNISONE
     Dosage: 40 MILLIGRAM, QD (1 EVERY 1 DAYS)
  780. PREDNISONE [Suspect]
     Active Substance: PREDNISONE
     Dosage: 50 MILLIGRAM, QD (1 EVERY 1 DAY)
  781. CHOLECALCIFEROL [Suspect]
     Active Substance: CHOLECALCIFEROL
     Indication: Product used for unknown indication
  782. PARA-AMINOSALICYLIC ACID [Suspect]
     Active Substance: AMINOSALICYLIC ACID
     Indication: Deep vein thrombosis
  783. PARA-AMINOSALICYLIC ACID [Suspect]
     Active Substance: AMINOSALICYLIC ACID
     Indication: Colitis ulcerative
  784. OMEPRAZOLE [Suspect]
     Active Substance: OMEPRAZOLE
     Indication: Gastritis
  785. OMEPRAZOLE [Suspect]
     Active Substance: OMEPRAZOLE
     Dosage: 20 MILLIGRAM, BID (2 EVERY 1 DAY)
  786. OMEPRAZOLE [Suspect]
     Active Substance: OMEPRAZOLE
  787. CORTIFOAM [Suspect]
     Active Substance: HYDROCORTISONE ACETATE
     Indication: Colitis ulcerative
  788. CORTIFOAM [Suspect]
     Active Substance: HYDROCORTISONE ACETATE
  789. CORTIFOAM [Suspect]
     Active Substance: HYDROCORTISONE ACETATE
     Dosage: 1 DOSAGE FORM, QD (DAILY)
  790. CORTIFOAM [Suspect]
     Active Substance: HYDROCORTISONE ACETATE
  791. ADALIMUMAB [Suspect]
     Active Substance: ADALIMUMAB
     Indication: Crohn^s disease
  792. ADALIMUMAB [Suspect]
     Active Substance: ADALIMUMAB
     Indication: Colitis ulcerative
  793. ADALIMUMAB [Suspect]
     Active Substance: ADALIMUMAB
     Indication: Deep vein thrombosis
  794. ADALIMUMAB [Suspect]
     Active Substance: ADALIMUMAB
  795. ADALIMUMAB [Suspect]
     Active Substance: ADALIMUMAB
  796. MESALAMINE [Suspect]
     Active Substance: MESALAMINE
     Indication: Colitis ulcerative
     Dosage: 6 DOSAGE FORM, QD
     Dates: start: 20161001
  797. MESALAMINE [Suspect]
     Active Substance: MESALAMINE
     Dosage: 2.4 GRAM, QD
     Dates: start: 20161001
  798. MESALAMINE [Suspect]
     Active Substance: MESALAMINE
     Dates: start: 2017, end: 201709
  799. MESALAMINE [Suspect]
     Active Substance: MESALAMINE
     Dosage: 3 DOSAGE FORM, BID
     Dates: start: 201610
  800. MESALAMINE [Suspect]
     Active Substance: MESALAMINE
     Dates: start: 20170101, end: 20170901
  801. MESALAMINE [Suspect]
     Active Substance: MESALAMINE
     Dates: start: 20160101, end: 20161001
  802. MESALAMINE [Suspect]
     Active Substance: MESALAMINE
     Dosage: 4.8 GRAM, QD
     Dates: start: 20161001
  803. MESALAMINE [Suspect]
     Active Substance: MESALAMINE
  804. MESALAMINE [Suspect]
     Active Substance: MESALAMINE
  805. MESALAMINE [Suspect]
     Active Substance: MESALAMINE
  806. MESALAMINE [Suspect]
     Active Substance: MESALAMINE
  807. MESALAMINE [Suspect]
     Active Substance: MESALAMINE
  808. MESALAMINE [Suspect]
     Active Substance: MESALAMINE
  809. MESALAMINE [Suspect]
     Active Substance: MESALAMINE
  810. MESALAMINE [Suspect]
     Active Substance: MESALAMINE
  811. MESALAMINE [Suspect]
     Active Substance: MESALAMINE
     Dosage: 6 DOSAGE FORM, QD
  812. MESALAMINE [Suspect]
     Active Substance: MESALAMINE
  813. MESALAMINE [Suspect]
     Active Substance: MESALAMINE
     Dosage: 4.8 GRAM, QD (1 EVERY 1 DAY)
  814. MESALAMINE [Suspect]
     Active Substance: MESALAMINE
  815. MESALAMINE [Suspect]
     Active Substance: MESALAMINE
  816. MESALAMINE [Suspect]
     Active Substance: MESALAMINE
     Dosage: 3 DOSAGE FORM, BID (2 EVERY 1 DAY)
  817. INFLIXIMAB [Suspect]
     Active Substance: INFLIXIMAB
     Indication: Colitis ulcerative
  818. INFLIXIMAB [Suspect]
     Active Substance: INFLIXIMAB
     Indication: Crohn^s disease
  819. INFLIXIMAB [Suspect]
     Active Substance: INFLIXIMAB
  820. INFLIXIMAB [Suspect]
     Active Substance: INFLIXIMAB
  821. INFLIXIMAB [Suspect]
     Active Substance: INFLIXIMAB
     Dosage: UNK, Q2W (1 EVERY 2 WEEKS)
  822. INFLIXIMAB [Suspect]
     Active Substance: INFLIXIMAB
  823. INFLIXIMAB [Suspect]
     Active Substance: INFLIXIMAB
  824. INFLIXIMAB [Suspect]
     Active Substance: INFLIXIMAB
  825. INFLIXIMAB [Suspect]
     Active Substance: INFLIXIMAB
     Dosage: UNK, Q2W (1 EVERY 2 WEEKS)
  826. INFLIXIMAB [Suspect]
     Active Substance: INFLIXIMAB
  827. INFLIXIMAB [Suspect]
     Active Substance: INFLIXIMAB
  828. INFLIXIMAB [Suspect]
     Active Substance: INFLIXIMAB
  829. INFLIXIMAB [Suspect]
     Active Substance: INFLIXIMAB
  830. INFLIXIMAB [Suspect]
     Active Substance: INFLIXIMAB
  831. INFLIXIMAB [Suspect]
     Active Substance: INFLIXIMAB
  832. INFLIXIMAB [Suspect]
     Active Substance: INFLIXIMAB
  833. INFLIXIMAB [Suspect]
     Active Substance: INFLIXIMAB
  834. INFLIXIMAB [Suspect]
     Active Substance: INFLIXIMAB
  835. INFLIXIMAB [Suspect]
     Active Substance: INFLIXIMAB
  836. INFLIXIMAB [Suspect]
     Active Substance: INFLIXIMAB
  837. INFLIXIMAB [Suspect]
     Active Substance: INFLIXIMAB
  838. INFLIXIMAB [Suspect]
     Active Substance: INFLIXIMAB
  839. INFLIXIMAB [Suspect]
     Active Substance: INFLIXIMAB
     Dosage: UNK, BIMONTHLY (1 EVERY 8 WEEKS)
  840. INFLIXIMAB [Suspect]
     Active Substance: INFLIXIMAB
     Dosage: UNK, Q2W (1 EVERY 2 WEEKS)
  841. INFLIXIMAB [Suspect]
     Active Substance: INFLIXIMAB
  842. INFLIXIMAB [Suspect]
     Active Substance: INFLIXIMAB
  843. CORTISONE [Suspect]
     Active Substance: CORTISONE
     Indication: Crohn^s disease
     Dosage: 8 DOSAGE FORM, QD (8 DOSAGE FORM, 1 EVERY 1 DAYS)
  844. CORTISONE [Suspect]
     Active Substance: CORTISONE
     Indication: Colitis ulcerative
  845. CORTISONE [Suspect]
     Active Substance: CORTISONE
  846. CORTISONE [Suspect]
     Active Substance: CORTISONE
     Dosage: 1 DOSAGE FORM, QD (1 DOSAGE 1 EVERY 1 DAY)
  847. CORTISONE [Suspect]
     Active Substance: CORTISONE
  848. CORTISONE [Suspect]
     Active Substance: CORTISONE
     Dosage: UNK, QD (1 EVERY1 DAYS)
  849. CORTISONE [Suspect]
     Active Substance: CORTISONE
  850. CORTISONE [Suspect]
     Active Substance: CORTISONE
  851. CORTISONE [Suspect]
     Active Substance: CORTISONE
     Dosage: 8 DOSAGE FORM, BIMONTHLY (1 DOSE PER 8W)
  852. CORTISONE [Suspect]
     Active Substance: CORTISONE
     Dosage: 8 MILLIGRAM, QW (1 DOSE PER 1W)
  853. CORTISONE [Suspect]
     Active Substance: CORTISONE
     Dosage: 6 MILLIGRAM, QW (1 DOSE PER 1W)
  854. MESALAMINE [Suspect]
     Active Substance: MESALAMINE
     Indication: Colitis ulcerative
     Dosage: 6 DOSAGE FORM, QD
     Dates: start: 20161001
  855. MESALAMINE [Suspect]
     Active Substance: MESALAMINE
     Dosage: 6 DOSAGE FORM, QD (3 DOSAGE FORM, BID)
     Dates: start: 201610
  856. ROSUVASTATIN [Suspect]
     Active Substance: ROSUVASTATIN
     Indication: Blood cholesterol increased
     Dosage: 10 MILLIGRAM, QD
  857. LEVOTHYROXINE SODIUM [Suspect]
     Active Substance: LEVOTHYROXINE SODIUM
     Indication: Product used for unknown indication
  858. ALBENDAZOLE [Suspect]
     Active Substance: ALBENDAZOLE
     Indication: Deep vein thrombosis
  859. ALBENDAZOLE [Suspect]
     Active Substance: ALBENDAZOLE
     Indication: Colitis ulcerative
  860. ALBENDAZOLE [Suspect]
     Active Substance: ALBENDAZOLE
  861. ALBENDAZOLE [Suspect]
     Active Substance: ALBENDAZOLE
  862. HUMIRA [Suspect]
     Active Substance: ADALIMUMAB
     Indication: Crohn^s disease
  863. HUMIRA [Suspect]
     Active Substance: ADALIMUMAB
     Indication: Deep vein thrombosis
  864. HUMIRA [Suspect]
     Active Substance: ADALIMUMAB
     Indication: Colitis ulcerative
  865. HUMIRA [Suspect]
     Active Substance: ADALIMUMAB
  866. HUMIRA [Suspect]
     Active Substance: ADALIMUMAB
  867. HUMIRA [Suspect]
     Active Substance: ADALIMUMAB
  868. VEDOLIZUMAB [Suspect]
     Active Substance: VEDOLIZUMAB
     Indication: Colitis ulcerative
     Dosage: 1 DOSAGE FORM, QD
     Dates: start: 2017, end: 2017
  869. VEDOLIZUMAB [Suspect]
     Active Substance: VEDOLIZUMAB
     Indication: Deep vein thrombosis
     Dosage: 1 DOSAGE FORM, QD (1 EVERY 1 DAY)
  870. VEDOLIZUMAB [Suspect]
     Active Substance: VEDOLIZUMAB
  871. VEDOLIZUMAB [Suspect]
     Active Substance: VEDOLIZUMAB
     Dosage: 8 DOSAGE FORM, BIMONTHLY (1 EVERY 8 WEEKS)
  872. VEDOLIZUMAB [Suspect]
     Active Substance: VEDOLIZUMAB
  873. VEDOLIZUMAB [Suspect]
     Active Substance: VEDOLIZUMAB
  874. VEDOLIZUMAB [Suspect]
     Active Substance: VEDOLIZUMAB
  875. VEDOLIZUMAB [Suspect]
     Active Substance: VEDOLIZUMAB
     Dosage: UNK, QD (1 EVERY 1 DAY)
  876. VEDOLIZUMAB [Suspect]
     Active Substance: VEDOLIZUMAB
     Dosage: 8 DOSAGE FORM, BIMONTHLY (1 EVERY 8 WEEKS)
  877. VEDOLIZUMAB [Suspect]
     Active Substance: VEDOLIZUMAB
  878. BUDESONIDE [Suspect]
     Active Substance: BUDESONIDE
     Indication: Colitis ulcerative
  879. BUDESONIDE [Suspect]
     Active Substance: BUDESONIDE
  880. BUDESONIDE [Suspect]
     Active Substance: BUDESONIDE
     Dosage: 8 DOSAGE FORM, QD (1 EVERY 1 DAY)
  881. BUDESONIDE [Suspect]
     Active Substance: BUDESONIDE
  882. BUDESONIDE [Suspect]
     Active Substance: BUDESONIDE
  883. BUDESONIDE [Suspect]
     Active Substance: BUDESONIDE
     Dosage: 1 DOSAGE FORM, QD (1 EVERY 1 DAY)
  884. BUDESONIDE [Suspect]
     Active Substance: BUDESONIDE
  885. BUDESONIDE [Suspect]
     Active Substance: BUDESONIDE
  886. BUDESONIDE [Suspect]
     Active Substance: BUDESONIDE
  887. BUDESONIDE [Suspect]
     Active Substance: BUDESONIDE
  888. BUDESONIDE [Suspect]
     Active Substance: BUDESONIDE
  889. BUDESONIDE [Suspect]
     Active Substance: BUDESONIDE
     Dosage: 245 DOSAGE FORM, QD (1 EVERY 1 DAY)
  890. BUDESONIDE [Suspect]
     Active Substance: BUDESONIDE
  891. BUDESONIDE [Suspect]
     Active Substance: BUDESONIDE
     Dosage: 1 DOSAGE FORM, QD (1 EVERY 1 DAY)
  892. BUDESONIDE [Suspect]
     Active Substance: BUDESONIDE
  893. INFLIXIMAB [Suspect]
     Active Substance: INFLIXIMAB
     Indication: Crohn^s disease
     Dosage: UNK, 6XW (1 EVERY 6 WEEK)
  894. INFLIXIMAB [Suspect]
     Active Substance: INFLIXIMAB
     Indication: Colitis ulcerative
     Dosage: UNK, BIMONTHLY (1 EVERY 8 WEEKS)
  895. WARFARIN [Suspect]
     Active Substance: WARFARIN
     Indication: Product used for unknown indication
  896. VEDOLIZUMAB [Suspect]
     Active Substance: VEDOLIZUMAB
     Indication: Colitis ulcerative
  897. VEDOLIZUMAB [Suspect]
     Active Substance: VEDOLIZUMAB
     Indication: Deep vein thrombosis
  898. VEDOLIZUMAB [Suspect]
     Active Substance: VEDOLIZUMAB
  899. VEDOLIZUMAB [Suspect]
     Active Substance: VEDOLIZUMAB
  900. VEDOLIZUMAB [Suspect]
     Active Substance: VEDOLIZUMAB
  901. HYDROCORTISONE [Suspect]
     Active Substance: HYDROCORTISONE
     Indication: Colitis ulcerative
     Dosage: 8 DOSAGE FORM, QD (1 EVERY 1 DAY)
  902. HYDROCORTISONE [Suspect]
     Active Substance: HYDROCORTISONE
     Indication: Crohn^s disease
  903. HYDROCORTISONE [Suspect]
     Active Substance: HYDROCORTISONE
  904. HYDROCORTISONE [Suspect]
     Active Substance: HYDROCORTISONE
     Dosage: 8 DOSAGE FORM, BIMONTHLY (1 EVERY 8 WEEKS)
  905. HYDROCORTISONE [Suspect]
     Active Substance: HYDROCORTISONE
     Dosage: 1 DOSAGE FORM, QD (1 EVERY 1 DAY)
  906. HYDROCORTISONE [Suspect]
     Active Substance: HYDROCORTISONE
     Dosage: 8 DOSAGE FORM, BIMONTHLY (1 EVERY 8 WEEKS)
  907. HYDROCORTISONE [Suspect]
     Active Substance: HYDROCORTISONE
  908. HYDROCORTISONE [Suspect]
     Active Substance: HYDROCORTISONE
  909. HYDROCORTISONE [Suspect]
     Active Substance: HYDROCORTISONE
     Dosage: 1 DOSAGE FORM, QD (1 EVERY 1 DAY)
  910. HYDROCORTISONE [Suspect]
     Active Substance: HYDROCORTISONE
     Dosage: 8 DOSAGE FORM, QD (1 EVERY 1 DAY)
  911. HYDROCORTISONE [Suspect]
     Active Substance: HYDROCORTISONE
     Dosage: UNK, QD (1 EVERY 1 DAY)
  912. HYDROCORTISONE [Suspect]
     Active Substance: HYDROCORTISONE
  913. HYDROCORTISONE [Suspect]
     Active Substance: HYDROCORTISONE
     Dosage: 3 DOSAGE FORM, BID (1 EVERY 12 HOURS)
  914. HYDROCORTISONE [Suspect]
     Active Substance: HYDROCORTISONE
  915. LISDEXAMFETAMINE DIMESYLATE [Suspect]
     Active Substance: LISDEXAMFETAMINE DIMESYLATE
     Indication: Product used for unknown indication
  916. FELODIPINE [Suspect]
     Active Substance: FELODIPINE
     Indication: Hypertension
  917. FELODIPINE [Suspect]
     Active Substance: FELODIPINE
     Dosage: 5 MILLIGRAM, QD (1 EVERY 1 DAYS)
  918. INFLIXIMAB [Suspect]
     Active Substance: INFLIXIMAB
     Indication: Crohn^s disease
  919. INFLIXIMAB [Suspect]
     Active Substance: INFLIXIMAB
     Indication: Colitis ulcerative
  920. INFLIXIMAB [Suspect]
     Active Substance: INFLIXIMAB
  921. INFLIXIMAB [Suspect]
     Active Substance: INFLIXIMAB
  922. INFLIXIMAB [Suspect]
     Active Substance: INFLIXIMAB
  923. INFLIXIMAB [Suspect]
     Active Substance: INFLIXIMAB
  924. INFLIXIMAB [Suspect]
     Active Substance: INFLIXIMAB
  925. INFLIXIMAB [Suspect]
     Active Substance: INFLIXIMAB
     Dates: start: 20170101, end: 20170901
  926. INFLIXIMAB [Suspect]
     Active Substance: INFLIXIMAB
  927. INFLIXIMAB [Suspect]
     Active Substance: INFLIXIMAB
     Dates: start: 20170101, end: 20170901
  928. INFLIXIMAB [Suspect]
     Active Substance: INFLIXIMAB
     Dosage: UNK, 6XW (1 DOSE PER 6W)
  929. INFLIXIMAB [Suspect]
     Active Substance: INFLIXIMAB
     Dosage: 120 MILLIGRAM, BIWEEKLY (1 DOSE PER 8 W)
  930. INFLIXIMAB [Suspect]
     Active Substance: INFLIXIMAB
     Dosage: 8 DOSAGE FORM, BIMONTHLY (1 DOSE PER 8W)
  931. INFLIXIMAB [Suspect]
     Active Substance: INFLIXIMAB
  932. INFLIXIMAB [Suspect]
     Active Substance: INFLIXIMAB
  933. OXYCODONE [Suspect]
     Active Substance: OXYCODONE
     Indication: Product used for unknown indication
  934. OXYCODONE [Suspect]
     Active Substance: OXYCODONE
     Dosage: 5 MILLIGRAM, BID (2 DOSES PER DAY)
  935. INFLECTRA [Suspect]
     Active Substance: INFLIXIMAB-DYYB
     Indication: Crohn^s disease
  936. INFLECTRA [Suspect]
     Active Substance: INFLIXIMAB-DYYB
     Indication: Colitis ulcerative
  937. INFLECTRA [Suspect]
     Active Substance: INFLIXIMAB-DYYB
  938. INFLECTRA [Suspect]
     Active Substance: INFLIXIMAB-DYYB
  939. INFLECTRA [Suspect]
     Active Substance: INFLIXIMAB-DYYB
  940. INFLECTRA [Suspect]
     Active Substance: INFLIXIMAB-DYYB
  941. INFLECTRA [Suspect]
     Active Substance: INFLIXIMAB-DYYB
  942. INFLECTRA [Suspect]
     Active Substance: INFLIXIMAB-DYYB
  943. INFLECTRA [Suspect]
     Active Substance: INFLIXIMAB-DYYB
  944. INFLECTRA [Suspect]
     Active Substance: INFLIXIMAB-DYYB
  945. INFLECTRA [Suspect]
     Active Substance: INFLIXIMAB-DYYB
  946. CANDESARTAN [Suspect]
     Active Substance: CANDESARTAN
     Indication: Colitis ulcerative
  947. CANDESARTAN [Suspect]
     Active Substance: CANDESARTAN
  948. LISDEXAMFETAMINE DIMESYLATE [Suspect]
     Active Substance: LISDEXAMFETAMINE DIMESYLATE
     Indication: Product used for unknown indication
  949. VEDOLIZUMAB [Suspect]
     Active Substance: VEDOLIZUMAB
     Indication: Colitis ulcerative
     Dosage: 1 DOSAGE FORM, QD (1 DOSE PER DAY)
  950. VEDOLIZUMAB [Suspect]
     Active Substance: VEDOLIZUMAB
     Indication: Deep vein thrombosis
     Dosage: 8 DOSAGE FORM, BIMONTHLY (1 DOSE PER 8W)
  951. VEDOLIZUMAB [Suspect]
     Active Substance: VEDOLIZUMAB
  952. RIVAROXABAN [Concomitant]
     Active Substance: RIVAROXABAN
     Indication: Ill-defined disorder
  953. Cortiment [Concomitant]
     Indication: Colitis ulcerative
  954. METHOTREXATE [Concomitant]
     Active Substance: METHOTREXATE
     Indication: Colitis ulcerative
     Dates: start: 20090101, end: 20160101
  955. METHOTREXATE [Concomitant]
     Active Substance: METHOTREXATE
     Dates: start: 20090101, end: 20160101
  956. METHOTREXATE [Concomitant]
     Active Substance: METHOTREXATE
     Dates: start: 201709, end: 201709
  957. METHOTREXATE [Concomitant]
     Active Substance: METHOTREXATE
  958. METHOTREXATE [Concomitant]
     Active Substance: METHOTREXATE
  959. METHOTREXATE [Concomitant]
     Active Substance: METHOTREXATE
  960. METHOTREXATE [Concomitant]
     Active Substance: METHOTREXATE
  961. METHOTREXATE [Concomitant]
     Active Substance: METHOTREXATE
  962. METHOTREXATE [Concomitant]
     Active Substance: METHOTREXATE
  963. METHOTREXATE [Concomitant]
     Active Substance: METHOTREXATE
  964. METHOTREXATE [Concomitant]
     Active Substance: METHOTREXATE
  965. PREDNISONE [Concomitant]
     Active Substance: PREDNISONE
     Indication: Colitis ulcerative
  966. PREDNISONE [Concomitant]
     Active Substance: PREDNISONE
     Dosage: 40 MILLIGRAM, QD
  967. XELJANZ [Concomitant]
     Active Substance: TOFACITINIB CITRATE
     Indication: Colitis ulcerative
     Dosage: 10 MILLIGRAM, QD, (5MG BID)
  968. XELJANZ [Concomitant]
     Active Substance: TOFACITINIB CITRATE
     Dosage: 5 MILLIGRAM, BID
  969. XELJANZ [Concomitant]
     Active Substance: TOFACITINIB CITRATE
     Dosage: 10 MILLIGRAM, QD, (5MG BID)
  970. XELJANZ [Concomitant]
     Active Substance: TOFACITINIB CITRATE
     Dosage: 10 MILLIGRAM, BID (2 DOSE PER DAY)
  971. XELJANZ [Concomitant]
     Active Substance: TOFACITINIB CITRATE
     Dosage: 10 MILLIGRAM, QD (1 DOSE PER DAY)
  972. XELJANZ [Concomitant]
     Active Substance: TOFACITINIB CITRATE
     Dosage: 5 MILLIGRAM, QD (1 DOSE PER DAY)
  973. XELJANZ [Concomitant]
     Active Substance: TOFACITINIB CITRATE
  974. XELJANZ [Concomitant]
     Active Substance: TOFACITINIB CITRATE
  975. XELJANZ [Concomitant]
     Active Substance: TOFACITINIB CITRATE
  976. TOFACITINIB CITRATE [Concomitant]
     Active Substance: TOFACITINIB CITRATE
     Indication: Ill-defined disorder
  977. TOFACITINIB CITRATE [Concomitant]
     Active Substance: TOFACITINIB CITRATE
     Indication: Colitis ulcerative
     Dosage: 10 MILLIGRAM, QD (1 EVERY 1 DAYS)
  978. TOFACITINIB CITRATE [Concomitant]
     Active Substance: TOFACITINIB CITRATE
  979. HYDROCORTISONE [Concomitant]
     Active Substance: HYDROCORTISONE
     Indication: Colitis ulcerative
     Dosage: 1 DOSAGE FORM, QD
  980. MESALAMINE [Concomitant]
     Active Substance: MESALAMINE
     Indication: Colitis ulcerative
  981. ALBENDAZOLE [Concomitant]
     Active Substance: ALBENDAZOLE
     Indication: Crohn^s disease
  982. ALBENDAZOLE [Concomitant]
     Active Substance: ALBENDAZOLE
     Indication: Colitis ulcerative
     Dates: start: 20090101, end: 20160101
  983. ALBENDAZOLE [Concomitant]
     Active Substance: ALBENDAZOLE
     Indication: Deep vein thrombosis
  984. POLYETHYLENE GLYCOL 3350\POTASSIUM CHLORIDE\SODIUM BICARBONATE\SODIUM [Concomitant]
     Active Substance: POLYETHYLENE GLYCOL 3350\POTASSIUM CHLORIDE\SODIUM BICARBONATE\SODIUM CHLORIDE
  985. AMLODIPINE [Concomitant]
     Active Substance: AMLODIPINE BESYLATE
  986. Zerobase [Concomitant]
  987. BETNOVATE [Concomitant]
     Active Substance: BETAMETHASONE
  988. LYRICA [Concomitant]
     Active Substance: PREGABALIN
     Indication: Ill-defined disorder
  989. GAVISCON [Concomitant]
     Active Substance: ALUMINUM HYDROXIDE\MAGNESIUM CARBONATE
  990. Rennie [Concomitant]
  991. CALCIUM CARBONATE\CHOLECALCIFEROL [Concomitant]
     Active Substance: CALCIUM CARBONATE\CHOLECALCIFEROL
  992. LATANOPROST [Concomitant]
     Active Substance: LATANOPROST
  993. MOVICOL [Concomitant]
     Active Substance: POLYETHYLENE GLYCOL 3350\POTASSIUM CHLORIDE\SODIUM BICARBONATE\SODIUM CHLORIDE
  994. ATORVASTATIN [Concomitant]
     Active Substance: ATORVASTATIN
  995. ROSUVASTATIN [Concomitant]
     Active Substance: ROSUVASTATIN
     Indication: Ill-defined disorder
  996. ROSUVASTATIN [Concomitant]
     Active Substance: ROSUVASTATIN
     Indication: Blood cholesterol increased
     Dosage: 10 MILLIGRAM, QD
  997. ROSUVASTATIN [Concomitant]
     Active Substance: ROSUVASTATIN
  998. EMPAGLIFLOZIN [Concomitant]
     Active Substance: EMPAGLIFLOZIN
     Indication: Ill-defined disorder
  999. LATANOPROST [Concomitant]
     Active Substance: LATANOPROST
     Indication: Crohn^s disease
  1000. LATANOPROST [Concomitant]
     Active Substance: LATANOPROST
  1001. LATANOPROST [Concomitant]
     Active Substance: LATANOPROST
  1002. FESOTERODINE FUMARATE [Concomitant]
     Active Substance: FESOTERODINE FUMARATE
  1003. LANSOPRAZOLE [Concomitant]
     Active Substance: LANSOPRAZOLE
     Indication: Ill-defined disorder
  1004. BISOPROLOL [Concomitant]
     Active Substance: BISOPROLOL
     Indication: Ill-defined disorder
  1005. BISOPROLOL [Concomitant]
     Active Substance: BISOPROLOL
     Indication: Dyscalculia
  1006. DORZOLAMIDE HYDROCHLORIDE [Concomitant]
     Active Substance: DORZOLAMIDE HYDROCHLORIDE
     Indication: Ill-defined disorder
  1007. ACETAMINOPHEN [Concomitant]
     Active Substance: ACETAMINOPHEN
  1008. OMEPRAZOLE [Concomitant]
     Active Substance: OMEPRAZOLE
  1009. RAMIPRIL [Concomitant]
     Active Substance: RAMIPRIL
     Indication: Ill-defined disorder
  1010. TETRAHYDROZOLINE HYDROCHLORIDE [Concomitant]
     Active Substance: TETRAHYDROZOLINE HYDROCHLORIDE
  1011. TAMSULOSIN HYDROCHLORIDE [Concomitant]
     Active Substance: TAMSULOSIN HYDROCHLORIDE
     Indication: Ill-defined disorder
  1012. PRAVASTATIN [Concomitant]
     Active Substance: PRAVASTATIN
     Indication: Ill-defined disorder
  1013. DAPAGLIFLOZIN [Concomitant]
     Active Substance: DAPAGLIFLOZIN
  1014. NITROFURANTOIN [Concomitant]
     Active Substance: NITROFURANTOIN
     Indication: Ill-defined disorder
  1015. FOLIC ACID [Concomitant]
     Active Substance: FOLIC ACID
     Indication: Ill-defined disorder
  1016. SULFASALAZINE [Concomitant]
     Active Substance: SULFASALAZINE
     Indication: Colitis ulcerative
     Dates: start: 2009, end: 2016
  1017. SULFASALAZINE [Concomitant]
     Active Substance: SULFASALAZINE
     Indication: Arthritis
     Dates: start: 20160101, end: 20160101
  1018. SULFASALAZINE [Concomitant]
     Active Substance: SULFASALAZINE
     Indication: Colitis ulcerative
     Dates: start: 20090101, end: 20160101
  1019. SULFASALAZINE [Concomitant]
     Active Substance: SULFASALAZINE
     Indication: Product used for unknown indication
     Dates: start: 201709, end: 201709
  1020. SULFASALAZINE [Concomitant]
     Active Substance: SULFASALAZINE
     Dates: start: 20091001, end: 20161001
  1021. SULFASALAZINE [Concomitant]
     Active Substance: SULFASALAZINE
  1022. SULFASALAZINE [Concomitant]
     Active Substance: SULFASALAZINE
  1023. CLOBETASONE BUTYRATE [Concomitant]
     Active Substance: CLOBETASONE BUTYRATE
     Indication: Ill-defined disorder
  1024. CITALOPRAM [Concomitant]
     Active Substance: CITALOPRAM
     Indication: Ill-defined disorder
  1025. ACETAMINOPHEN [Concomitant]
     Active Substance: ACETAMINOPHEN
     Indication: Ill-defined disorder
  1026. SULFASALAZINE [Concomitant]
     Active Substance: SULFASALAZINE
     Indication: Colitis ulcerative
     Dosage: 3 MILLIGRAM, QD
  1027. SULFASALAZINE [Concomitant]
     Active Substance: SULFASALAZINE
     Dosage: 5 MILLIGRAM, QD
  1028. SULFASALAZINE [Concomitant]
     Active Substance: SULFASALAZINE
  1029. AMLODIPINE BESYLATE [Concomitant]
     Active Substance: AMLODIPINE BESYLATE
  1030. AMLODIPINE BESYLATE [Concomitant]
     Active Substance: AMLODIPINE BESYLATE
  1031. POLYETHYLENE GLYCOL 3350\POTASSIUM CHLORIDE\SODIUM BICARBONATE\SODIUM [Concomitant]
     Active Substance: POLYETHYLENE GLYCOL 3350\POTASSIUM CHLORIDE\SODIUM BICARBONATE\SODIUM CHLORIDE
     Indication: Ill-defined disorder
  1032. POLYETHYLENE GLYCOL 3350\POTASSIUM CHLORIDE\SODIUM BICARBONATE\SODIUM [Concomitant]
     Active Substance: POLYETHYLENE GLYCOL 3350\POTASSIUM CHLORIDE\SODIUM BICARBONATE\SODIUM CHLORIDE
  1033. ATORVASTATIN CALCIUM [Concomitant]
     Active Substance: ATORVASTATIN CALCIUM
  1034. ASPIRIN [Concomitant]
     Active Substance: ASPIRIN
  1035. CALCIUM CARBONATE\SODIUM ALGINATE\SODIUM BICARBONATE [Concomitant]
     Active Substance: CALCIUM CARBONATE\SODIUM ALGINATE\SODIUM BICARBONATE
  1036. MINERAL OIL [Concomitant]
     Active Substance: MINERAL OIL
     Indication: Ill-defined disorder
  1037. NAPHAZOLINE HYDROCHLORIDE [Concomitant]
     Active Substance: NAPHAZOLINE HYDROCHLORIDE
     Indication: Ill-defined disorder
  1038. Alginic acid;Aluminium hydroxide gel, dried [Concomitant]
     Indication: Ill-defined disorder
  1039. Alginic acid;Aluminium hydroxide gel, dried [Concomitant]
  1040. HUMIRA [Concomitant]
     Active Substance: ADALIMUMAB
     Indication: Crohn^s disease
  1041. HUMIRA [Concomitant]
     Active Substance: ADALIMUMAB
     Indication: Deep vein thrombosis
  1042. HUMIRA [Concomitant]
     Active Substance: ADALIMUMAB
     Indication: Colitis ulcerative
  1043. AMLODIPINE BESYLATE [Concomitant]
     Active Substance: AMLODIPINE BESYLATE
  1044. Rennie [Concomitant]
  1045. ALUMINUM HYDROXIDE GEL [Concomitant]
     Active Substance: ALGELDRATE
  1046. SODIUM ALGINATE [Concomitant]
     Active Substance: SODIUM ALGINATE
  1047. CALCIUM CARBONATE\CHOLECALCIFEROL [Concomitant]
     Active Substance: CALCIUM CARBONATE\CHOLECALCIFEROL
  1048. Aluminium hydroxide;Calcium carbonate;Sodium alginate;Sodium bicarbona [Concomitant]
  1049. POLYETHYLENE GLYCOLS [Concomitant]
     Active Substance: POLYETHYLENE GLYCOLS
  1050. PARAFFIN [Concomitant]
     Active Substance: PARAFFIN
  1051. TETRAHYDROZOLINE HYDROCHLORIDE [Concomitant]
     Active Substance: TETRAHYDROZOLINE HYDROCHLORIDE
     Indication: Crohn^s disease
  1052. TETRAHYDROZOLINE HYDROCHLORIDE [Concomitant]
     Active Substance: TETRAHYDROZOLINE HYDROCHLORIDE
     Indication: Colitis ulcerative
  1053. ATORVASTATIN CALCIUM [Concomitant]
     Active Substance: ATORVASTATIN CALCIUM
  1054. CALCIUM CARBONATE\CHOLECALCIFEROL [Concomitant]
     Active Substance: CALCIUM CARBONATE\CHOLECALCIFEROL
  1055. CALCIUM CARBONATE\CHOLECALCIFEROL [Concomitant]
     Active Substance: CALCIUM CARBONATE\CHOLECALCIFEROL
  1056. CITALOPRAM HYDROBROMIDE [Concomitant]
     Active Substance: CITALOPRAM HYDROBROMIDE
  1057. FESOTERODINE FUMARATE [Concomitant]
     Active Substance: FESOTERODINE FUMARATE
  1058. LATANOPROST [Concomitant]
     Active Substance: LATANOPROST
     Indication: Crohn^s disease
  1059. RIVAROXABAN [Concomitant]
     Active Substance: RIVAROXABAN
     Indication: Ill-defined disorder
  1060. Calcium carbonate;Magnesium carbonate [Concomitant]
  1061. Calcium carbonate;Magnesium carbonate [Concomitant]
  1062. ACETAMINOPHEN\CAFFEINE [Concomitant]
     Active Substance: ACETAMINOPHEN\CAFFEINE
  1063. MEBEVERINE HYDROCHLORIDE [Concomitant]
     Active Substance: MEBEVERINE HYDROCHLORIDE
  1064. ADALIMUMAB [Concomitant]
     Active Substance: ADALIMUMAB
     Indication: Crohn^s disease
  1065. ADALIMUMAB [Concomitant]
     Active Substance: ADALIMUMAB
     Indication: Colitis ulcerative
  1066. ADALIMUMAB [Concomitant]
     Active Substance: ADALIMUMAB
     Indication: Deep vein thrombosis
  1067. ADALIMUMAB [Concomitant]
     Active Substance: ADALIMUMAB
     Dosage: UNK, BIMONTHLY (1 EVERY 8 WEEKS)
  1068. BETAMETHASONE VALERATE [Concomitant]
     Active Substance: BETAMETHASONE VALERATE

REACTIONS (53)
  - Loss of personal independence in daily activities [Unknown]
  - Deep vein thrombosis [Unknown]
  - Bronchiectasis [Not Recovered/Not Resolved]
  - Impaired quality of life [Unknown]
  - Colitis ulcerative [Unknown]
  - Condition aggravated [Unknown]
  - Rectal haemorrhage [Unknown]
  - Haematochezia [Not Recovered/Not Resolved]
  - Impaired work ability [Not Recovered/Not Resolved]
  - Frequent bowel movements [Not Recovered/Not Resolved]
  - Steroid dependence [Not Recovered/Not Resolved]
  - Stress [Not Recovered/Not Resolved]
  - Abdominal discomfort [Not Recovered/Not Resolved]
  - Burns second degree [Not Recovered/Not Resolved]
  - Cardiac murmur [Not Recovered/Not Resolved]
  - Catarrh [Not Recovered/Not Resolved]
  - Cerebrovascular accident [Not Recovered/Not Resolved]
  - Arthritis [Not Recovered/Not Resolved]
  - Confusional state [Not Recovered/Not Resolved]
  - COVID-19 [Not Recovered/Not Resolved]
  - Depression [Not Recovered/Not Resolved]
  - Dysgeusia [Not Recovered/Not Resolved]
  - Eczema [Not Recovered/Not Resolved]
  - Gingival pain [Not Recovered/Not Resolved]
  - Pain in extremity [Not Recovered/Not Resolved]
  - Hypopnoea [Not Recovered/Not Resolved]
  - Migraine [Not Recovered/Not Resolved]
  - Nightmare [Not Recovered/Not Resolved]
  - Tubulointerstitial nephritis [Not Recovered/Not Resolved]
  - Swollen tongue [Not Recovered/Not Resolved]
  - Systemic lupus erythematosus [Not Recovered/Not Resolved]
  - Adverse drug reaction [Not Recovered/Not Resolved]
  - Parosmia [Not Recovered/Not Resolved]
  - Alcohol poisoning [Not Recovered/Not Resolved]
  - Pulmonary embolism [Not Recovered/Not Resolved]
  - Vertigo [Not Recovered/Not Resolved]
  - Weight decreased [Not Recovered/Not Resolved]
  - Rash [Not Recovered/Not Resolved]
  - Palpitations [Not Recovered/Not Resolved]
  - Pain [Not Recovered/Not Resolved]
  - Fatigue [Not Recovered/Not Resolved]
  - Pyrexia [Not Recovered/Not Resolved]
  - Rhinitis [Not Recovered/Not Resolved]
  - Somnolence [Not Recovered/Not Resolved]
  - Tinnitus [Not Recovered/Not Resolved]
  - Headache [Not Recovered/Not Resolved]
  - Product use in unapproved indication [Not Recovered/Not Resolved]
  - Off label use [Not Recovered/Not Resolved]
  - Medication error [Not Recovered/Not Resolved]
  - Drug ineffective [Unknown]
  - Intentional product use issue [Not Recovered/Not Resolved]
  - Inappropriate schedule of product administration [Not Recovered/Not Resolved]
  - Accidental overdose [Not Recovered/Not Resolved]

NARRATIVE: CASE EVENT DATE: 20080101
